FAERS Safety Report 25183079 (Version 6)
Quarter: 2025Q4

REPORT INFORMATION
  Report Type: Report from Study
  Country: EU (occurrence: EU)
  Receive Date: 20250410
  Receipt Date: 20251215
  Transmission Date: 20260117
  Serious: Yes (Death, Hospitalization, Other)
  Sender: MYLAN
  Company Number: EU-SA-2025SA084449

PATIENT
  Age: 66 Year
  Sex: Female
  Weight: 80 kg

DRUGS (802)
  1. DOCETAXEL [Suspect]
     Active Substance: DOCETAXEL
     Indication: Breast cancer metastatic
     Dosage: 183 MG (EVERY 17 DAYS)
  2. DOCETAXEL [Suspect]
     Active Substance: DOCETAXEL
     Dosage: 183 MG (EVERY 17 DAYS)
  3. DOCETAXEL [Suspect]
     Active Substance: DOCETAXEL
     Dosage: 183 MG (EVERY 17 DAYS)
     Route: 065
  4. DOCETAXEL [Suspect]
     Active Substance: DOCETAXEL
     Dosage: 183 MG (EVERY 17 DAYS)
     Route: 065
  5. DOCETAXEL [Suspect]
     Active Substance: DOCETAXEL
     Dosage: 190 MILLIGRAM, Q3W
  6. DOCETAXEL [Suspect]
     Active Substance: DOCETAXEL
     Dosage: 190 MILLIGRAM, Q3W
  7. DOCETAXEL [Suspect]
     Active Substance: DOCETAXEL
     Dosage: 190 MILLIGRAM, Q3W
     Route: 065
  8. DOCETAXEL [Suspect]
     Active Substance: DOCETAXEL
     Dosage: 190 MILLIGRAM, Q3W
     Route: 065
  9. DOCETAXEL [Suspect]
     Active Substance: DOCETAXEL
     Dosage: 180 MILLIGRAM, Q3W
  10. DOCETAXEL [Suspect]
     Active Substance: DOCETAXEL
     Dosage: 180 MILLIGRAM, Q3W
  11. DOCETAXEL [Suspect]
     Active Substance: DOCETAXEL
     Dosage: 180 MILLIGRAM, Q3W
     Route: 065
  12. DOCETAXEL [Suspect]
     Active Substance: DOCETAXEL
     Dosage: 180 MILLIGRAM, Q3W
     Route: 065
  13. DOCETAXEL [Suspect]
     Active Substance: DOCETAXEL
     Dosage: 134.25 MILLIGRAM, Q3W
  14. DOCETAXEL [Suspect]
     Active Substance: DOCETAXEL
     Dosage: 134.25 MILLIGRAM, Q3W
  15. DOCETAXEL [Suspect]
     Active Substance: DOCETAXEL
     Dosage: 134.25 MILLIGRAM, Q3W
     Route: 065
  16. DOCETAXEL [Suspect]
     Active Substance: DOCETAXEL
     Dosage: 134.25 MILLIGRAM, Q3W
     Route: 065
  17. DOCETAXEL [Suspect]
     Active Substance: DOCETAXEL
     Dosage: 175 MG, EVERY 17 DAYS
  18. DOCETAXEL [Suspect]
     Active Substance: DOCETAXEL
     Dosage: 175 MG, EVERY 17 DAYS
     Route: 065
  19. DOCETAXEL [Suspect]
     Active Substance: DOCETAXEL
     Dosage: 175 MG, EVERY 17 DAYS
  20. DOCETAXEL [Suspect]
     Active Substance: DOCETAXEL
     Dosage: 175 MG, EVERY 17 DAYS
     Route: 065
  21. DOCETAXEL [Suspect]
     Active Substance: DOCETAXEL
     Dosage: 462 MILLIGRAM, Q3W
     Dates: start: 20170810, end: 20190213
  22. DOCETAXEL [Suspect]
     Active Substance: DOCETAXEL
     Dosage: 462 MILLIGRAM, Q3W
     Dates: start: 20170810, end: 20190213
  23. DOCETAXEL [Suspect]
     Active Substance: DOCETAXEL
     Dosage: 462 MILLIGRAM, Q3W
     Route: 065
     Dates: start: 20170810, end: 20190213
  24. DOCETAXEL [Suspect]
     Active Substance: DOCETAXEL
     Dosage: 462 MILLIGRAM, Q3W
     Route: 065
     Dates: start: 20170810, end: 20190213
  25. DOCETAXEL [Suspect]
     Active Substance: DOCETAXEL
     Dosage: 414 MILLIGRAM, Q3W
     Dates: start: 20170609, end: 20170630
  26. DOCETAXEL [Suspect]
     Active Substance: DOCETAXEL
     Dosage: 414 MILLIGRAM, Q3W
     Dates: start: 20170609, end: 20170630
  27. DOCETAXEL [Suspect]
     Active Substance: DOCETAXEL
     Dosage: 414 MILLIGRAM, Q3W
     Route: 042
     Dates: start: 20170609, end: 20170630
  28. DOCETAXEL [Suspect]
     Active Substance: DOCETAXEL
     Dosage: 414 MILLIGRAM, Q3W
     Route: 042
     Dates: start: 20170609, end: 20170630
  29. DOCETAXEL [Suspect]
     Active Substance: DOCETAXEL
     Dosage: 468 MILLIGRAM, Q3W
     Dates: start: 20170720, end: 20170720
  30. DOCETAXEL [Suspect]
     Active Substance: DOCETAXEL
     Dosage: 468 MILLIGRAM, Q3W
     Dates: start: 20170720, end: 20170720
  31. DOCETAXEL [Suspect]
     Active Substance: DOCETAXEL
     Dosage: 468 MILLIGRAM, Q3W
     Route: 042
     Dates: start: 20170720, end: 20170720
  32. DOCETAXEL [Suspect]
     Active Substance: DOCETAXEL
     Dosage: 468 MILLIGRAM, Q3W
     Route: 042
     Dates: start: 20170720, end: 20170720
  33. DOCETAXEL [Suspect]
     Active Substance: DOCETAXEL
     Dosage: 408 MILLIGRAM, Q3W
     Dates: start: 20170410, end: 20170427
  34. DOCETAXEL [Suspect]
     Active Substance: DOCETAXEL
     Dosage: 408 MILLIGRAM, Q3W
     Dates: start: 20170410, end: 20170427
  35. DOCETAXEL [Suspect]
     Active Substance: DOCETAXEL
     Dosage: 408 MILLIGRAM, Q3W
     Route: 042
     Dates: start: 20170410, end: 20170427
  36. DOCETAXEL [Suspect]
     Active Substance: DOCETAXEL
     Dosage: 408 MILLIGRAM, Q3W
     Route: 042
     Dates: start: 20170410, end: 20170427
  37. DOCETAXEL [Suspect]
     Active Substance: DOCETAXEL
     Dosage: 560 MILLIGRAM, Q3W
     Dates: start: 20201230, end: 20210210
  38. DOCETAXEL [Suspect]
     Active Substance: DOCETAXEL
     Dosage: 560 MILLIGRAM, Q3W
     Dates: start: 20201230, end: 20210210
  39. DOCETAXEL [Suspect]
     Active Substance: DOCETAXEL
     Dosage: 560 MILLIGRAM, Q3W
     Route: 042
     Dates: start: 20201230, end: 20210210
  40. DOCETAXEL [Suspect]
     Active Substance: DOCETAXEL
     Dosage: 560 MILLIGRAM, Q3W
     Route: 042
     Dates: start: 20201230, end: 20210210
  41. DOCETAXEL [Suspect]
     Active Substance: DOCETAXEL
     Dosage: 408 MILLIGRAM, Q3W
     Dates: start: 20210317, end: 20210428
  42. DOCETAXEL [Suspect]
     Active Substance: DOCETAXEL
     Dosage: 408 MILLIGRAM, Q3W
     Route: 042
     Dates: start: 20210317, end: 20210428
  43. DOCETAXEL [Suspect]
     Active Substance: DOCETAXEL
     Dosage: 408 MILLIGRAM, Q3W
     Dates: start: 20210317, end: 20210428
  44. DOCETAXEL [Suspect]
     Active Substance: DOCETAXEL
     Dosage: 408 MILLIGRAM, Q3W
     Route: 042
     Dates: start: 20210317, end: 20210428
  45. DOCETAXEL [Suspect]
     Active Substance: DOCETAXEL
     Dosage: 540 MILLIGRAM, Q3W
     Dates: start: 20200422, end: 20200624
  46. DOCETAXEL [Suspect]
     Active Substance: DOCETAXEL
     Dosage: 540 MILLIGRAM, Q3W
     Dates: start: 20200422, end: 20200624
  47. DOCETAXEL [Suspect]
     Active Substance: DOCETAXEL
     Dosage: 540 MILLIGRAM, Q3W
     Route: 042
     Dates: start: 20200422, end: 20200624
  48. DOCETAXEL [Suspect]
     Active Substance: DOCETAXEL
     Dosage: 540 MILLIGRAM, Q3W
     Route: 042
     Dates: start: 20200422, end: 20200624
  49. DOCETAXEL [Suspect]
     Active Substance: DOCETAXEL
     Dosage: 432 MILLIGRAM, Q3W
     Dates: start: 20170519, end: 20170519
  50. DOCETAXEL [Suspect]
     Active Substance: DOCETAXEL
     Dosage: 432 MILLIGRAM, Q3W
     Dates: start: 20170519, end: 20170519
  51. DOCETAXEL [Suspect]
     Active Substance: DOCETAXEL
     Dosage: 432 MILLIGRAM, Q3W
     Route: 042
     Dates: start: 20170519, end: 20170519
  52. DOCETAXEL [Suspect]
     Active Substance: DOCETAXEL
     Dosage: 432 MILLIGRAM, Q3W
     Route: 042
     Dates: start: 20170519, end: 20170519
  53. DOCETAXEL [Suspect]
     Active Substance: DOCETAXEL
     Dosage: 624 MILLIGRAM, Q3W
     Dates: start: 20170224, end: 20170224
  54. DOCETAXEL [Suspect]
     Active Substance: DOCETAXEL
     Dosage: 624 MILLIGRAM, Q3W
     Dates: start: 20170224, end: 20170224
  55. DOCETAXEL [Suspect]
     Active Substance: DOCETAXEL
     Dosage: 624 MILLIGRAM, Q3W
     Route: 042
     Dates: start: 20170224, end: 20170224
  56. DOCETAXEL [Suspect]
     Active Substance: DOCETAXEL
     Dosage: 624 MILLIGRAM, Q3W
     Route: 042
     Dates: start: 20170224, end: 20170224
  57. DOCETAXEL [Suspect]
     Active Substance: DOCETAXEL
     Dosage: 624 MILLIGRAM, Q3W
     Dates: start: 20170317, end: 20170317
  58. DOCETAXEL [Suspect]
     Active Substance: DOCETAXEL
     Dosage: 624 MILLIGRAM, Q3W
     Dates: start: 20170317, end: 20170317
  59. DOCETAXEL [Suspect]
     Active Substance: DOCETAXEL
     Dosage: 624 MILLIGRAM, Q3W
     Route: 042
     Dates: start: 20170317, end: 20170317
  60. DOCETAXEL [Suspect]
     Active Substance: DOCETAXEL
     Dosage: 624 MILLIGRAM, Q3W
     Route: 042
     Dates: start: 20170317, end: 20170317
  61. DOCETAXEL [Suspect]
     Active Substance: DOCETAXEL
     Dosage: 468 MILLIGRAM, Q3W
     Dates: start: 20170720, end: 20170720
  62. DOCETAXEL [Suspect]
     Active Substance: DOCETAXEL
     Dosage: 468 MILLIGRAM, Q3W
     Dates: start: 20170720, end: 20170720
  63. DOCETAXEL [Suspect]
     Active Substance: DOCETAXEL
     Dosage: 468 MILLIGRAM, Q3W
     Route: 042
     Dates: start: 20170720, end: 20170720
  64. DOCETAXEL [Suspect]
     Active Substance: DOCETAXEL
     Dosage: 468 MILLIGRAM, Q3W
     Route: 042
     Dates: start: 20170720, end: 20170720
  65. DOCETAXEL [Suspect]
     Active Substance: DOCETAXEL
     Dosage: 462 MILLIGRAM, Q3W
     Dates: start: 20190213
  66. DOCETAXEL [Suspect]
     Active Substance: DOCETAXEL
     Dosage: 462 MILLIGRAM, Q3W
     Dates: start: 20190213
  67. DOCETAXEL [Suspect]
     Active Substance: DOCETAXEL
     Dosage: 462 MILLIGRAM, Q3W
     Route: 042
     Dates: start: 20190213
  68. DOCETAXEL [Suspect]
     Active Substance: DOCETAXEL
     Dosage: 462 MILLIGRAM, Q3W
     Route: 042
     Dates: start: 20190213
  69. ADRIACIN [Suspect]
     Active Substance: DOXORUBICIN HYDROCHLORIDE
     Indication: Breast cancer metastatic
     Dosage: 104.4 MILLIGRAM, QD
     Dates: start: 20210608, end: 20210608
  70. ADRIACIN [Suspect]
     Active Substance: DOXORUBICIN HYDROCHLORIDE
     Dosage: 104.4 MILLIGRAM, QD
     Route: 065
     Dates: start: 20210608, end: 20210608
  71. ADRIACIN [Suspect]
     Active Substance: DOXORUBICIN HYDROCHLORIDE
     Dosage: 104.4 MILLIGRAM, QD
     Route: 065
     Dates: start: 20210608, end: 20210608
  72. ADRIACIN [Suspect]
     Active Substance: DOXORUBICIN HYDROCHLORIDE
     Dosage: 104.4 MILLIGRAM, QD
     Dates: start: 20210608, end: 20210608
  73. BLEOMYCIN SULFATE [Suspect]
     Active Substance: BLEOMYCIN SULFATE
     Indication: Breast cancer metastatic
     Dosage: 26.85 MILLIGRAM, QD
     Dates: start: 20200519, end: 20200519
  74. BLEOMYCIN SULFATE [Suspect]
     Active Substance: BLEOMYCIN SULFATE
     Indication: HER2 positive breast cancer
     Dosage: 26.85 MILLIGRAM, QD
     Dates: start: 20200519, end: 20200519
  75. BLEOMYCIN SULFATE [Suspect]
     Active Substance: BLEOMYCIN SULFATE
     Dosage: 26.85 MILLIGRAM, QD
     Route: 065
     Dates: start: 20200519, end: 20200519
  76. BLEOMYCIN SULFATE [Suspect]
     Active Substance: BLEOMYCIN SULFATE
     Dosage: 26.85 MILLIGRAM, QD
     Route: 065
     Dates: start: 20200519, end: 20200519
  77. BLEOMYCIN SULFATE [Suspect]
     Active Substance: BLEOMYCIN SULFATE
     Dosage: 26.85 MILLIGRAM, QD
     Dates: start: 20210105, end: 20210105
  78. BLEOMYCIN SULFATE [Suspect]
     Active Substance: BLEOMYCIN SULFATE
     Dosage: 26.85 MILLIGRAM, QD
     Dates: start: 20210105, end: 20210105
  79. BLEOMYCIN SULFATE [Suspect]
     Active Substance: BLEOMYCIN SULFATE
     Dosage: 26.85 MILLIGRAM, QD
     Route: 065
     Dates: start: 20210105, end: 20210105
  80. BLEOMYCIN SULFATE [Suspect]
     Active Substance: BLEOMYCIN SULFATE
     Dosage: 26.85 MILLIGRAM, QD
     Route: 065
     Dates: start: 20210105, end: 20210105
  81. BLEOMYCIN SULFATE [Suspect]
     Active Substance: BLEOMYCIN SULFATE
     Dosage: 1 DOSAGE FORM, QD
     Dates: start: 20210105, end: 20250105
  82. BLEOMYCIN SULFATE [Suspect]
     Active Substance: BLEOMYCIN SULFATE
     Dosage: 1 DOSAGE FORM, QD
     Route: 065
     Dates: start: 20210105, end: 20250105
  83. BLEOMYCIN SULFATE [Suspect]
     Active Substance: BLEOMYCIN SULFATE
     Dosage: 1 DOSAGE FORM, QD
     Dates: start: 20210105, end: 20250105
  84. BLEOMYCIN SULFATE [Suspect]
     Active Substance: BLEOMYCIN SULFATE
     Dosage: 1 DOSAGE FORM, QD
     Route: 065
     Dates: start: 20210105, end: 20250105
  85. TAXOTERE [Suspect]
     Active Substance: DOCETAXEL
     Indication: Breast cancer metastatic
     Dosage: 180 MILLIGRAM, INTERVAL: 3 WEEK
     Dates: start: 20170609, end: 20170630
  86. TAXOTERE [Suspect]
     Active Substance: DOCETAXEL
     Dosage: 180 MILLIGRAM, INTERVAL: 3 WEEK
     Dates: start: 20170609, end: 20170630
  87. TAXOTERE [Suspect]
     Active Substance: DOCETAXEL
     Dosage: 180 MILLIGRAM, INTERVAL: 3 WEEK
     Route: 042
     Dates: start: 20170609, end: 20170630
  88. TAXOTERE [Suspect]
     Active Substance: DOCETAXEL
     Dosage: 180 MILLIGRAM, INTERVAL: 3 WEEK
     Route: 042
     Dates: start: 20170609, end: 20170630
  89. TAXOTERE [Suspect]
     Active Substance: DOCETAXEL
     Dosage: 540 MILLIGRAM. INTERVAL: 1 WEEK
     Dates: start: 20170609, end: 20170630
  90. TAXOTERE [Suspect]
     Active Substance: DOCETAXEL
     Dosage: 540 MILLIGRAM. INTERVAL: 1 WEEK
     Dates: start: 20170609, end: 20170630
  91. TAXOTERE [Suspect]
     Active Substance: DOCETAXEL
     Dosage: 540 MILLIGRAM. INTERVAL: 1 WEEK
     Route: 042
     Dates: start: 20170609, end: 20170630
  92. TAXOTERE [Suspect]
     Active Substance: DOCETAXEL
     Dosage: 540 MILLIGRAM. INTERVAL: 1 WEEK
     Route: 042
     Dates: start: 20170609, end: 20170630
  93. TAXOTERE [Suspect]
     Active Substance: DOCETAXEL
     Dosage: 175 MILLIGRAM
     Dates: start: 20170410, end: 20170427
  94. TAXOTERE [Suspect]
     Active Substance: DOCETAXEL
     Dosage: 175 MILLIGRAM
     Route: 042
     Dates: start: 20170410, end: 20170427
  95. TAXOTERE [Suspect]
     Active Substance: DOCETAXEL
     Dosage: 175 MILLIGRAM
     Dates: start: 20170410, end: 20170427
  96. TAXOTERE [Suspect]
     Active Substance: DOCETAXEL
     Dosage: 175 MILLIGRAM
     Route: 042
     Dates: start: 20170410, end: 20170427
  97. TAXOTERE [Suspect]
     Active Substance: DOCETAXEL
     Dosage: 180 MILLIGRAM, INTERVAL: 3 WEEK
     Route: 042
     Dates: start: 20210317, end: 20210428
  98. TAXOTERE [Suspect]
     Active Substance: DOCETAXEL
     Dosage: 180 MILLIGRAM, INTERVAL: 3 WEEK
     Route: 042
     Dates: start: 20210317, end: 20210428
  99. TAXOTERE [Suspect]
     Active Substance: DOCETAXEL
     Dosage: 180 MILLIGRAM, INTERVAL: 3 WEEK
     Dates: start: 20210317, end: 20210428
  100. TAXOTERE [Suspect]
     Active Substance: DOCETAXEL
     Dosage: 180 MILLIGRAM, INTERVAL: 3 WEEK
     Dates: start: 20210317, end: 20210428
  101. TAXOTERE [Suspect]
     Active Substance: DOCETAXEL
     Dosage: 402.75 MILLIGRAM, QW
     Dates: start: 20210317, end: 20210428
  102. TAXOTERE [Suspect]
     Active Substance: DOCETAXEL
     Dosage: 402.75 MILLIGRAM, QW
     Route: 042
     Dates: start: 20210317, end: 20210428
  103. TAXOTERE [Suspect]
     Active Substance: DOCETAXEL
     Dosage: 402.75 MILLIGRAM, QW
     Dates: start: 20210317, end: 20210428
  104. TAXOTERE [Suspect]
     Active Substance: DOCETAXEL
     Dosage: 402.75 MILLIGRAM, QW
     Route: 042
     Dates: start: 20210317, end: 20210428
  105. TAXOTERE [Suspect]
     Active Substance: DOCETAXEL
     Dosage: 183 MILLIGRAM
     Dates: start: 20170519, end: 20170519
  106. TAXOTERE [Suspect]
     Active Substance: DOCETAXEL
     Dosage: 183 MILLIGRAM
     Dates: start: 20170519, end: 20170519
  107. TAXOTERE [Suspect]
     Active Substance: DOCETAXEL
     Dosage: 183 MILLIGRAM
     Route: 042
     Dates: start: 20170519, end: 20170519
  108. TAXOTERE [Suspect]
     Active Substance: DOCETAXEL
     Dosage: 183 MILLIGRAM
     Route: 042
     Dates: start: 20170519, end: 20170519
  109. TAXOTERE [Suspect]
     Active Substance: DOCETAXEL
     Dosage: 190 MILLIGRAM, INTERVAL: 3 WEEK
     Route: 042
     Dates: start: 20170224
  110. TAXOTERE [Suspect]
     Active Substance: DOCETAXEL
     Dosage: 190 MILLIGRAM, INTERVAL: 3 WEEK
     Route: 042
     Dates: start: 20170224
  111. TAXOTERE [Suspect]
     Active Substance: DOCETAXEL
     Dosage: 190 MILLIGRAM, INTERVAL: 3 WEEK
     Dates: start: 20170224
  112. TAXOTERE [Suspect]
     Active Substance: DOCETAXEL
     Dosage: 190 MILLIGRAM, INTERVAL: 3 WEEK
     Dates: start: 20170224
  113. TAXOTERE [Suspect]
     Active Substance: DOCETAXEL
     Dosage: 570 MILLIGRAM, INTERVAL: 1 WEEK
     Route: 042
  114. TAXOTERE [Suspect]
     Active Substance: DOCETAXEL
     Dosage: 570 MILLIGRAM, INTERVAL: 1 WEEK
  115. TAXOTERE [Suspect]
     Active Substance: DOCETAXEL
     Dosage: 570 MILLIGRAM, INTERVAL: 1 WEEK
  116. TAXOTERE [Suspect]
     Active Substance: DOCETAXEL
     Dosage: 570 MILLIGRAM, INTERVAL: 1 WEEK
     Route: 042
  117. TAXOTERE [Suspect]
     Active Substance: DOCETAXEL
     Dosage: 540 MILLIGRAM, INTERVAL: 1 WEEK
     Dates: start: 20170609, end: 20170630
  118. TAXOTERE [Suspect]
     Active Substance: DOCETAXEL
     Dosage: 540 MILLIGRAM, INTERVAL: 1 WEEK
     Dates: start: 20170609, end: 20170630
  119. TAXOTERE [Suspect]
     Active Substance: DOCETAXEL
     Dosage: 540 MILLIGRAM, INTERVAL: 1 WEEK
     Route: 065
     Dates: start: 20170609, end: 20170630
  120. TAXOTERE [Suspect]
     Active Substance: DOCETAXEL
     Dosage: 540 MILLIGRAM, INTERVAL: 1 WEEK
     Route: 065
     Dates: start: 20170609, end: 20170630
  121. TAXOTERE [Suspect]
     Active Substance: DOCETAXEL
     Dosage: 175 MILLIGRAM
     Dates: start: 20170410, end: 20170427
  122. TAXOTERE [Suspect]
     Active Substance: DOCETAXEL
     Dosage: 175 MILLIGRAM
     Route: 065
     Dates: start: 20170410, end: 20170427
  123. TAXOTERE [Suspect]
     Active Substance: DOCETAXEL
     Dosage: 175 MILLIGRAM
     Dates: start: 20170410, end: 20170427
  124. TAXOTERE [Suspect]
     Active Substance: DOCETAXEL
     Dosage: 175 MILLIGRAM
     Route: 065
     Dates: start: 20170410, end: 20170427
  125. TAXOTERE [Suspect]
     Active Substance: DOCETAXEL
     Dosage: 40.75 MILLIGRAM, INTERVAL: 1 WEEK
     Dates: start: 20210317, end: 20210428
  126. TAXOTERE [Suspect]
     Active Substance: DOCETAXEL
     Dosage: 40.75 MILLIGRAM, INTERVAL: 1 WEEK
     Route: 065
     Dates: start: 20210317, end: 20210428
  127. TAXOTERE [Suspect]
     Active Substance: DOCETAXEL
     Dosage: 40.75 MILLIGRAM, INTERVAL: 1 WEEK
     Route: 065
     Dates: start: 20210317, end: 20210428
  128. TAXOTERE [Suspect]
     Active Substance: DOCETAXEL
     Dosage: 40.75 MILLIGRAM, INTERVAL: 1 WEEK
     Dates: start: 20210317, end: 20210428
  129. TAXOTERE [Suspect]
     Active Substance: DOCETAXEL
     Dosage: 402.75 MILLIGRAM, INTERVAL: 1 WEEK
     Route: 065
     Dates: start: 20210317, end: 20210428
  130. TAXOTERE [Suspect]
     Active Substance: DOCETAXEL
     Dosage: 402.75 MILLIGRAM, INTERVAL: 1 WEEK
     Dates: start: 20210317, end: 20210428
  131. TAXOTERE [Suspect]
     Active Substance: DOCETAXEL
     Dosage: 402.75 MILLIGRAM, INTERVAL: 1 WEEK
     Dates: start: 20210317, end: 20210428
  132. TAXOTERE [Suspect]
     Active Substance: DOCETAXEL
     Dosage: 402.75 MILLIGRAM, INTERVAL: 1 WEEK
     Route: 065
     Dates: start: 20210317, end: 20210428
  133. TAXOTERE [Suspect]
     Active Substance: DOCETAXEL
     Dosage: 183 MILLIGRAM
     Route: 065
     Dates: start: 20170519, end: 20170519
  134. TAXOTERE [Suspect]
     Active Substance: DOCETAXEL
     Dosage: 183 MILLIGRAM
     Route: 065
     Dates: start: 20170519, end: 20170519
  135. TAXOTERE [Suspect]
     Active Substance: DOCETAXEL
     Dosage: 183 MILLIGRAM
     Dates: start: 20170519, end: 20170519
  136. TAXOTERE [Suspect]
     Active Substance: DOCETAXEL
     Dosage: 183 MILLIGRAM
     Dates: start: 20170519, end: 20170519
  137. TAXOTERE [Suspect]
     Active Substance: DOCETAXEL
     Dosage: 570 MILLIGRAM, INTERVAL: 1 WEEK
     Route: 065
     Dates: start: 20170224
  138. TAXOTERE [Suspect]
     Active Substance: DOCETAXEL
     Dosage: 570 MILLIGRAM, INTERVAL: 1 WEEK
     Dates: start: 20170224
  139. TAXOTERE [Suspect]
     Active Substance: DOCETAXEL
     Dosage: 570 MILLIGRAM, INTERVAL: 1 WEEK
     Dates: start: 20170224
  140. TAXOTERE [Suspect]
     Active Substance: DOCETAXEL
     Dosage: 570 MILLIGRAM, INTERVAL: 1 WEEK
     Route: 065
     Dates: start: 20170224
  141. VINORELBINE TARTRATE [Suspect]
     Active Substance: VINORELBINE TARTRATE
     Indication: Breast cancer metastatic
     Dosage: 45 MILLIGRAM, Q3W
     Dates: start: 20200422, end: 20200722
  142. VINORELBINE TARTRATE [Suspect]
     Active Substance: VINORELBINE TARTRATE
     Dosage: 45 MILLIGRAM, Q3W
     Route: 042
     Dates: start: 20200422, end: 20200722
  143. VINORELBINE TARTRATE [Suspect]
     Active Substance: VINORELBINE TARTRATE
     Dosage: 45 MILLIGRAM, Q3W
     Route: 042
     Dates: start: 20200422, end: 20200722
  144. VINORELBINE TARTRATE [Suspect]
     Active Substance: VINORELBINE TARTRATE
     Dosage: 45 MILLIGRAM, Q3W
     Dates: start: 20200422, end: 20200722
  145. TUCATINIB [Suspect]
     Active Substance: TUCATINIB
     Indication: Breast cancer metastatic
     Dosage: 300 MILLIGRAM, BID
     Route: 048
     Dates: start: 20201230, end: 20210210
  146. TUCATINIB [Suspect]
     Active Substance: TUCATINIB
     Dosage: 300 MILLIGRAM, BID
     Route: 061
     Dates: start: 20201230, end: 20210210
  147. TUCATINIB [Suspect]
     Active Substance: TUCATINIB
     Dosage: 300 MILLIGRAM, BID
     Route: 061
     Dates: start: 20201230, end: 20210210
  148. TUCATINIB [Suspect]
     Active Substance: TUCATINIB
     Dosage: 300 MILLIGRAM, BID
     Route: 048
     Dates: start: 20201230, end: 20210210
  149. TUCATINIB [Suspect]
     Active Substance: TUCATINIB
     Dosage: 300 MILLIGRAM, BID (0.5 DAY)
     Route: 048
     Dates: start: 20210210
  150. TUCATINIB [Suspect]
     Active Substance: TUCATINIB
     Dosage: 300 MILLIGRAM, BID (0.5 DAY)
     Route: 061
     Dates: start: 20210210
  151. TUCATINIB [Suspect]
     Active Substance: TUCATINIB
     Dosage: 300 MILLIGRAM, BID (0.5 DAY)
     Route: 061
     Dates: start: 20210210
  152. TUCATINIB [Suspect]
     Active Substance: TUCATINIB
     Dosage: 300 MILLIGRAM, BID (0.5 DAY)
     Route: 048
     Dates: start: 20210210
  153. TRASTUZUMAB DERUXTECAN [Suspect]
     Active Substance: TRASTUZUMAB DERUXTECAN
     Indication: Breast cancer metastatic
     Dosage: UNK
     Dates: start: 20200814, end: 20201015
  154. TRASTUZUMAB DERUXTECAN [Suspect]
     Active Substance: TRASTUZUMAB DERUXTECAN
     Dosage: UNK
     Route: 065
     Dates: start: 20200814, end: 20201015
  155. TRASTUZUMAB DERUXTECAN [Suspect]
     Active Substance: TRASTUZUMAB DERUXTECAN
     Dosage: UNK
     Route: 065
     Dates: start: 20200814, end: 20201015
  156. TRASTUZUMAB DERUXTECAN [Suspect]
     Active Substance: TRASTUZUMAB DERUXTECAN
     Dosage: UNK
     Dates: start: 20200814, end: 20201015
  157. PERJETA [Suspect]
     Active Substance: PERTUZUMAB
     Indication: Breast cancer metastatic
     Dosage: 840 MILLIGRAM, QD
     Dates: start: 20210317, end: 20210428
  158. PERJETA [Suspect]
     Active Substance: PERTUZUMAB
     Indication: HER2 positive breast cancer
     Dosage: 840 MILLIGRAM, QD
     Dates: start: 20210317, end: 20210428
  159. PERJETA [Suspect]
     Active Substance: PERTUZUMAB
     Dosage: 840 MILLIGRAM, QD
     Route: 042
     Dates: start: 20210317, end: 20210428
  160. PERJETA [Suspect]
     Active Substance: PERTUZUMAB
     Dosage: 840 MILLIGRAM, QD
     Route: 042
     Dates: start: 20210317, end: 20210428
  161. PERJETA [Suspect]
     Active Substance: PERTUZUMAB
     Dosage: 840 MILLIGRAM, QD
     Route: 042
     Dates: start: 20200422, end: 20200615
  162. PERJETA [Suspect]
     Active Substance: PERTUZUMAB
     Dosage: 840 MILLIGRAM, QD
     Route: 042
     Dates: start: 20200422, end: 20200615
  163. PERJETA [Suspect]
     Active Substance: PERTUZUMAB
     Dosage: 840 MILLIGRAM, QD
     Dates: start: 20200422, end: 20200615
  164. PERJETA [Suspect]
     Active Substance: PERTUZUMAB
     Dosage: 840 MILLIGRAM, QD
     Dates: start: 20200422, end: 20200615
  165. PERJETA [Suspect]
     Active Substance: PERTUZUMAB
     Dosage: 840 MILLIGRAM, QD
     Route: 042
     Dates: start: 20170224
  166. PERJETA [Suspect]
     Active Substance: PERTUZUMAB
     Dosage: 840 MILLIGRAM, QD
     Route: 042
     Dates: start: 20170224
  167. PERJETA [Suspect]
     Active Substance: PERTUZUMAB
     Dosage: 840 MILLIGRAM, QD
     Dates: start: 20170224
  168. PERJETA [Suspect]
     Active Substance: PERTUZUMAB
     Dosage: 840 MILLIGRAM, QD
     Dates: start: 20170224
  169. PERJETA [Suspect]
     Active Substance: PERTUZUMAB
     Dosage: UNK
  170. PERJETA [Suspect]
     Active Substance: PERTUZUMAB
     Dosage: UNK
  171. PERJETA [Suspect]
     Active Substance: PERTUZUMAB
     Dosage: UNK
     Route: 065
  172. PERJETA [Suspect]
     Active Substance: PERTUZUMAB
     Dosage: UNK
     Route: 065
  173. TYKERB [Suspect]
     Active Substance: LAPATINIB DITOSYLATE
     Indication: Breast cancer metastatic
     Dosage: 1000 MILLIGRAM, QD
     Route: 061
     Dates: start: 20200108, end: 20200421
  174. TYKERB [Suspect]
     Active Substance: LAPATINIB DITOSYLATE
     Dosage: 1000 MILLIGRAM, QD
     Route: 061
     Dates: start: 20200108, end: 20200421
  175. TYKERB [Suspect]
     Active Substance: LAPATINIB DITOSYLATE
     Dosage: 1000 MILLIGRAM, QD
     Route: 048
     Dates: start: 20200108, end: 20200421
  176. TYKERB [Suspect]
     Active Substance: LAPATINIB DITOSYLATE
     Dosage: 1000 MILLIGRAM, QD
     Route: 048
     Dates: start: 20200108, end: 20200421
  177. TYKERB [Suspect]
     Active Substance: LAPATINIB DITOSYLATE
     Dosage: 1250 MILLIGRAM, QD
     Route: 061
     Dates: start: 20191002, end: 20200107
  178. TYKERB [Suspect]
     Active Substance: LAPATINIB DITOSYLATE
     Dosage: 1250 MILLIGRAM, QD
     Route: 061
     Dates: start: 20191002, end: 20200107
  179. TYKERB [Suspect]
     Active Substance: LAPATINIB DITOSYLATE
     Dosage: 1250 MILLIGRAM, QD
     Route: 048
     Dates: start: 20191002, end: 20200107
  180. TYKERB [Suspect]
     Active Substance: LAPATINIB DITOSYLATE
     Dosage: 1250 MILLIGRAM, QD
     Route: 048
     Dates: start: 20191002, end: 20200107
  181. PERTUZUMAB [Suspect]
     Active Substance: PERTUZUMAB
     Indication: Breast cancer metastatic
     Dosage: 840 MILLIGRAM, QD, MOST RECENT DOSE
     Dates: start: 20170224, end: 20170224
  182. PERTUZUMAB [Suspect]
     Active Substance: PERTUZUMAB
     Dosage: 840 MILLIGRAM, QD, MOST RECENT DOSE
     Dates: start: 20170224, end: 20170224
  183. PERTUZUMAB [Suspect]
     Active Substance: PERTUZUMAB
     Dosage: 840 MILLIGRAM, QD, MOST RECENT DOSE
     Route: 042
     Dates: start: 20170224, end: 20170224
  184. PERTUZUMAB [Suspect]
     Active Substance: PERTUZUMAB
     Dosage: 840 MILLIGRAM, QD, MOST RECENT DOSE
     Route: 042
     Dates: start: 20170224, end: 20170224
  185. PERTUZUMAB [Suspect]
     Active Substance: PERTUZUMAB
     Dosage: 420 MILLIGRAM, QD
     Route: 042
     Dates: start: 20170317, end: 20190213
  186. PERTUZUMAB [Suspect]
     Active Substance: PERTUZUMAB
     Dosage: 420 MILLIGRAM, QD
     Route: 042
     Dates: start: 20170317, end: 20190213
  187. PERTUZUMAB [Suspect]
     Active Substance: PERTUZUMAB
     Dosage: 420 MILLIGRAM, QD
     Dates: start: 20170317, end: 20190213
  188. PERTUZUMAB [Suspect]
     Active Substance: PERTUZUMAB
     Dosage: 420 MILLIGRAM, QD
     Dates: start: 20170317, end: 20190213
  189. PERTUZUMAB [Suspect]
     Active Substance: PERTUZUMAB
     Dosage: 840 MILLIGRAM, QD
     Route: 042
     Dates: start: 20200422, end: 20200615
  190. PERTUZUMAB [Suspect]
     Active Substance: PERTUZUMAB
     Dosage: 840 MILLIGRAM, QD
     Dates: start: 20200422, end: 20200615
  191. PERTUZUMAB [Suspect]
     Active Substance: PERTUZUMAB
     Dosage: 840 MILLIGRAM, QD
     Dates: start: 20200422, end: 20200615
  192. PERTUZUMAB [Suspect]
     Active Substance: PERTUZUMAB
     Dosage: 840 MILLIGRAM, QD
     Route: 042
     Dates: start: 20200422, end: 20200615
  193. PERTUZUMAB [Suspect]
     Active Substance: PERTUZUMAB
     Dosage: 840 MILLIGRAM, QD
     Dates: start: 20210317, end: 20210428
  194. PERTUZUMAB [Suspect]
     Active Substance: PERTUZUMAB
     Dosage: 840 MILLIGRAM, QD
     Dates: start: 20210317, end: 20210428
  195. PERTUZUMAB [Suspect]
     Active Substance: PERTUZUMAB
     Dosage: 840 MILLIGRAM, QD
     Route: 042
     Dates: start: 20210317, end: 20210428
  196. PERTUZUMAB [Suspect]
     Active Substance: PERTUZUMAB
     Dosage: 840 MILLIGRAM, QD
     Route: 042
     Dates: start: 20210317, end: 20210428
  197. KADCYLA [Suspect]
     Active Substance: ADO-TRASTUZUMAB EMTANSINE
     Indication: Breast cancer metastatic
     Dosage: 270 MILLIGRAM, INTERVAL: 3 WEEK
     Dates: start: 20190306, end: 20190909
  198. KADCYLA [Suspect]
     Active Substance: ADO-TRASTUZUMAB EMTANSINE
     Dosage: 270 MILLIGRAM, INTERVAL: 3 WEEK
     Dates: start: 20190306, end: 20190909
  199. KADCYLA [Suspect]
     Active Substance: ADO-TRASTUZUMAB EMTANSINE
     Dosage: 270 MILLIGRAM, INTERVAL: 3 WEEK
     Route: 042
     Dates: start: 20190306, end: 20190909
  200. KADCYLA [Suspect]
     Active Substance: ADO-TRASTUZUMAB EMTANSINE
     Dosage: 270 MILLIGRAM, INTERVAL: 3 WEEK
     Route: 042
     Dates: start: 20190306, end: 20190909
  201. KADCYLA [Suspect]
     Active Substance: ADO-TRASTUZUMAB EMTANSINE
     Dosage: 810 MILLIGRAM, INTERVAL: 1 WEEK
     Route: 065
     Dates: start: 20190306, end: 20190909
  202. KADCYLA [Suspect]
     Active Substance: ADO-TRASTUZUMAB EMTANSINE
     Dosage: 810 MILLIGRAM, INTERVAL: 1 WEEK
     Route: 065
     Dates: start: 20190306, end: 20190909
  203. KADCYLA [Suspect]
     Active Substance: ADO-TRASTUZUMAB EMTANSINE
     Dosage: 810 MILLIGRAM, INTERVAL: 1 WEEK
     Dates: start: 20190306, end: 20190909
  204. KADCYLA [Suspect]
     Active Substance: ADO-TRASTUZUMAB EMTANSINE
     Dosage: 810 MILLIGRAM, INTERVAL: 1 WEEK
     Dates: start: 20190306, end: 20190909
  205. KADCYLA [Suspect]
     Active Substance: ADO-TRASTUZUMAB EMTANSINE
     Dosage: 190 MILLIGRAM, Q3W
     Route: 042
     Dates: start: 20170224, end: 20170317
  206. KADCYLA [Suspect]
     Active Substance: ADO-TRASTUZUMAB EMTANSINE
     Dosage: 190 MILLIGRAM, Q3W
     Route: 042
     Dates: start: 20170224, end: 20170317
  207. KADCYLA [Suspect]
     Active Substance: ADO-TRASTUZUMAB EMTANSINE
     Dosage: 190 MILLIGRAM, Q3W
     Dates: start: 20170224, end: 20170317
  208. KADCYLA [Suspect]
     Active Substance: ADO-TRASTUZUMAB EMTANSINE
     Dosage: 190 MILLIGRAM, Q3W
     Dates: start: 20170224, end: 20170317
  209. KADCYLA [Suspect]
     Active Substance: ADO-TRASTUZUMAB EMTANSINE
     Dosage: 175 MILLIGRAM  IN 17 DAYS (370 MG)
     Route: 042
     Dates: start: 20170410, end: 20170427
  210. KADCYLA [Suspect]
     Active Substance: ADO-TRASTUZUMAB EMTANSINE
     Dosage: 175 MILLIGRAM  IN 17 DAYS (370 MG)
     Dates: start: 20170410, end: 20170427
  211. KADCYLA [Suspect]
     Active Substance: ADO-TRASTUZUMAB EMTANSINE
     Dosage: 175 MILLIGRAM  IN 17 DAYS (370 MG)
     Dates: start: 20170410, end: 20170427
  212. KADCYLA [Suspect]
     Active Substance: ADO-TRASTUZUMAB EMTANSINE
     Dosage: 175 MILLIGRAM  IN 17 DAYS (370 MG)
     Route: 042
     Dates: start: 20170410, end: 20170427
  213. KADCYLA [Suspect]
     Active Substance: ADO-TRASTUZUMAB EMTANSINE
     Dosage: 370 MILLIGRAM
     Dates: start: 20170519, end: 20170519
  214. KADCYLA [Suspect]
     Active Substance: ADO-TRASTUZUMAB EMTANSINE
     Dosage: 370 MILLIGRAM
     Route: 042
     Dates: start: 20170519, end: 20170519
  215. KADCYLA [Suspect]
     Active Substance: ADO-TRASTUZUMAB EMTANSINE
     Dosage: 370 MILLIGRAM
     Route: 042
     Dates: start: 20170519, end: 20170519
  216. KADCYLA [Suspect]
     Active Substance: ADO-TRASTUZUMAB EMTANSINE
     Dosage: 370 MILLIGRAM
     Dates: start: 20170519, end: 20170519
  217. KADCYLA [Suspect]
     Active Substance: ADO-TRASTUZUMAB EMTANSINE
     Dosage: 180 MILLIGRAM, Q3W
     Route: 042
     Dates: start: 20170609, end: 20170630
  218. KADCYLA [Suspect]
     Active Substance: ADO-TRASTUZUMAB EMTANSINE
     Dosage: 180 MILLIGRAM, Q3W
     Dates: start: 20170609, end: 20170630
  219. KADCYLA [Suspect]
     Active Substance: ADO-TRASTUZUMAB EMTANSINE
     Dosage: 180 MILLIGRAM, Q3W
     Dates: start: 20170609, end: 20170630
  220. KADCYLA [Suspect]
     Active Substance: ADO-TRASTUZUMAB EMTANSINE
     Dosage: 180 MILLIGRAM, Q3W
     Route: 042
     Dates: start: 20170609, end: 20170630
  221. BLEOMYCIN [Suspect]
     Active Substance: BLEOMYCIN SULFATE
     Indication: Breast cancer metastatic
     Dosage: 26.85 MILLIGRAM, QD
     Dates: start: 20210105, end: 20210105
  222. BLEOMYCIN [Suspect]
     Active Substance: BLEOMYCIN SULFATE
     Indication: Breast cancer
     Dosage: 26.85 MILLIGRAM, QD
     Route: 042
     Dates: start: 20210105, end: 20210105
  223. BLEOMYCIN [Suspect]
     Active Substance: BLEOMYCIN SULFATE
     Dosage: 26.85 MILLIGRAM, QD
     Route: 042
     Dates: start: 20210105, end: 20210105
  224. BLEOMYCIN [Suspect]
     Active Substance: BLEOMYCIN SULFATE
     Dosage: 26.85 MILLIGRAM, QD
     Dates: start: 20210105, end: 20210105
  225. BLEOMYCIN [Suspect]
     Active Substance: BLEOMYCIN SULFATE
     Dosage: 26.85 MILLIGRAM, QD
     Dates: start: 20200519, end: 20200519
  226. BLEOMYCIN [Suspect]
     Active Substance: BLEOMYCIN SULFATE
     Dosage: 26.85 MILLIGRAM, QD
     Route: 042
     Dates: start: 20200519, end: 20200519
  227. BLEOMYCIN [Suspect]
     Active Substance: BLEOMYCIN SULFATE
     Dosage: 26.85 MILLIGRAM, QD
     Dates: start: 20200519, end: 20200519
  228. BLEOMYCIN [Suspect]
     Active Substance: BLEOMYCIN SULFATE
     Dosage: 26.85 MILLIGRAM, QD
     Route: 042
     Dates: start: 20200519, end: 20200519
  229. BLEOMYCIN [Suspect]
     Active Substance: BLEOMYCIN SULFATE
     Dosage: 1 DOSAGE FORM, QD
     Route: 042
     Dates: start: 20210105, end: 20250105
  230. BLEOMYCIN [Suspect]
     Active Substance: BLEOMYCIN SULFATE
     Dosage: 1 DOSAGE FORM, QD
     Route: 042
     Dates: start: 20210105, end: 20250105
  231. BLEOMYCIN [Suspect]
     Active Substance: BLEOMYCIN SULFATE
     Dosage: 1 DOSAGE FORM, QD
     Dates: start: 20210105, end: 20250105
  232. BLEOMYCIN [Suspect]
     Active Substance: BLEOMYCIN SULFATE
     Dosage: 1 DOSAGE FORM, QD
     Dates: start: 20210105, end: 20250105
  233. CAPECITABINE [Suspect]
     Active Substance: CAPECITABINE
     Indication: Breast cancer
     Dosage: 300 MILLIGRAM, QD
     Dates: end: 20200108
  234. CAPECITABINE [Suspect]
     Active Substance: CAPECITABINE
     Indication: Breast cancer metastatic
     Dosage: 300 MILLIGRAM, QD
     Dates: end: 20200108
  235. CAPECITABINE [Suspect]
     Active Substance: CAPECITABINE
     Dosage: 300 MILLIGRAM, QD
     Route: 065
     Dates: end: 20200108
  236. CAPECITABINE [Suspect]
     Active Substance: CAPECITABINE
     Dosage: 300 MILLIGRAM, QD
     Route: 065
     Dates: end: 20200108
  237. CAPECITABINE [Suspect]
     Active Substance: CAPECITABINE
     Dosage: 3000 MILLIGRAM, QD
     Route: 065
  238. CAPECITABINE [Suspect]
     Active Substance: CAPECITABINE
     Dosage: 3000 MILLIGRAM, QD
     Route: 065
  239. CAPECITABINE [Suspect]
     Active Substance: CAPECITABINE
     Dosage: 3000 MILLIGRAM, QD
  240. CAPECITABINE [Suspect]
     Active Substance: CAPECITABINE
     Dosage: 3000 MILLIGRAM, QD
  241. CAPECITABINE [Suspect]
     Active Substance: CAPECITABINE
     Dosage: 2000 MILLIGRAM, QD
     Route: 065
  242. CAPECITABINE [Suspect]
     Active Substance: CAPECITABINE
     Dosage: 2000 MILLIGRAM, QD
  243. CAPECITABINE [Suspect]
     Active Substance: CAPECITABINE
     Dosage: 2000 MILLIGRAM, QD
  244. CAPECITABINE [Suspect]
     Active Substance: CAPECITABINE
     Dosage: 2000 MILLIGRAM, QD
     Route: 065
  245. CAPECITABINE [Suspect]
     Active Substance: CAPECITABINE
     Dosage: 3500 MILLIGRAM, QD
  246. CAPECITABINE [Suspect]
     Active Substance: CAPECITABINE
     Dosage: 3500 MILLIGRAM, QD
  247. CAPECITABINE [Suspect]
     Active Substance: CAPECITABINE
     Dosage: 3500 MILLIGRAM, QD
     Route: 065
  248. CAPECITABINE [Suspect]
     Active Substance: CAPECITABINE
     Dosage: 3500 MILLIGRAM, QD
     Route: 065
  249. HERCEPTIN [Suspect]
     Active Substance: TRASTUZUMAB
     Indication: Breast cancer metastatic
     Dosage: 624 MILLIGRAM, QD
     Dates: start: 20170224, end: 20170224
  250. HERCEPTIN [Suspect]
     Active Substance: TRASTUZUMAB
     Indication: HER2 positive breast cancer
     Dosage: 624 MILLIGRAM, QD
     Dates: start: 20170224, end: 20170224
  251. HERCEPTIN [Suspect]
     Active Substance: TRASTUZUMAB
     Dosage: 624 MILLIGRAM, QD
     Route: 042
     Dates: start: 20170224, end: 20170224
  252. HERCEPTIN [Suspect]
     Active Substance: TRASTUZUMAB
     Dosage: 624 MILLIGRAM, QD
     Route: 042
     Dates: start: 20170224, end: 20170224
  253. HERCEPTIN [Suspect]
     Active Substance: TRASTUZUMAB
     Dosage: 468 MILLIGRAM, QD
     Route: 042
     Dates: start: 20170720, end: 20170720
  254. HERCEPTIN [Suspect]
     Active Substance: TRASTUZUMAB
     Dosage: 468 MILLIGRAM, QD
     Route: 042
     Dates: start: 20170720, end: 20170720
  255. HERCEPTIN [Suspect]
     Active Substance: TRASTUZUMAB
     Dosage: 468 MILLIGRAM, QD
     Dates: start: 20170720, end: 20170720
  256. HERCEPTIN [Suspect]
     Active Substance: TRASTUZUMAB
     Dosage: 468 MILLIGRAM, QD
     Dates: start: 20170720, end: 20170720
  257. HERCEPTIN [Suspect]
     Active Substance: TRASTUZUMAB
     Dosage: 468 MILLIGRAM, QD
     Route: 042
     Dates: start: 20201230, end: 20210210
  258. HERCEPTIN [Suspect]
     Active Substance: TRASTUZUMAB
     Dosage: 468 MILLIGRAM, QD
     Dates: start: 20201230, end: 20210210
  259. HERCEPTIN [Suspect]
     Active Substance: TRASTUZUMAB
     Dosage: 468 MILLIGRAM, QD
     Dates: start: 20201230, end: 20210210
  260. HERCEPTIN [Suspect]
     Active Substance: TRASTUZUMAB
     Dosage: 468 MILLIGRAM, QD
     Route: 042
     Dates: start: 20201230, end: 20210210
  261. HERCEPTIN [Suspect]
     Active Substance: TRASTUZUMAB
     Dosage: 540 MILLIGRAM, Q3W
     Route: 065
     Dates: start: 20200422, end: 20200615
  262. HERCEPTIN [Suspect]
     Active Substance: TRASTUZUMAB
     Dosage: 540 MILLIGRAM, Q3W
     Route: 065
     Dates: start: 20200422, end: 20200615
  263. HERCEPTIN [Suspect]
     Active Substance: TRASTUZUMAB
     Dosage: 540 MILLIGRAM, Q3W
     Dates: start: 20200422, end: 20200615
  264. HERCEPTIN [Suspect]
     Active Substance: TRASTUZUMAB
     Dosage: 540 MILLIGRAM, Q3W
     Dates: start: 20200422, end: 20200615
  265. HERCEPTIN [Suspect]
     Active Substance: TRASTUZUMAB
     Dosage: 462 MILLIGRAM, Q3W
     Route: 065
  266. HERCEPTIN [Suspect]
     Active Substance: TRASTUZUMAB
     Dosage: 462 MILLIGRAM, Q3W
  267. HERCEPTIN [Suspect]
     Active Substance: TRASTUZUMAB
     Dosage: 462 MILLIGRAM, Q3W
  268. HERCEPTIN [Suspect]
     Active Substance: TRASTUZUMAB
     Dosage: 462 MILLIGRAM, Q3W
     Route: 065
  269. HERCEPTIN [Suspect]
     Active Substance: TRASTUZUMAB
     Dosage: 432 MILLIGRAM, Q3W
     Route: 065
  270. HERCEPTIN [Suspect]
     Active Substance: TRASTUZUMAB
     Dosage: 432 MILLIGRAM, Q3W
     Route: 065
  271. HERCEPTIN [Suspect]
     Active Substance: TRASTUZUMAB
     Dosage: 432 MILLIGRAM, Q3W
  272. HERCEPTIN [Suspect]
     Active Substance: TRASTUZUMAB
     Dosage: 432 MILLIGRAM, Q3W
  273. HERCEPTIN [Suspect]
     Active Substance: TRASTUZUMAB
     Dosage: 414 MILLIGRAM, Q3W
  274. HERCEPTIN [Suspect]
     Active Substance: TRASTUZUMAB
     Dosage: 414 MILLIGRAM, Q3W
  275. HERCEPTIN [Suspect]
     Active Substance: TRASTUZUMAB
     Dosage: 414 MILLIGRAM, Q3W
     Route: 065
  276. HERCEPTIN [Suspect]
     Active Substance: TRASTUZUMAB
     Dosage: 414 MILLIGRAM, Q3W
     Route: 065
  277. HERCEPTIN [Suspect]
     Active Substance: TRASTUZUMAB
     Dosage: 408 MILLIGRAM, Q3W
     Route: 065
  278. HERCEPTIN [Suspect]
     Active Substance: TRASTUZUMAB
     Dosage: 408 MILLIGRAM, Q3W
  279. HERCEPTIN [Suspect]
     Active Substance: TRASTUZUMAB
     Dosage: 408 MILLIGRAM, Q3W
  280. HERCEPTIN [Suspect]
     Active Substance: TRASTUZUMAB
     Dosage: 408 MILLIGRAM, Q3W
     Route: 065
  281. HERCEPTIN [Suspect]
     Active Substance: TRASTUZUMAB
     Dosage: 390 MILLIGRAM, Q3W
     Route: 065
  282. HERCEPTIN [Suspect]
     Active Substance: TRASTUZUMAB
     Dosage: 390 MILLIGRAM, Q3W
     Route: 065
  283. HERCEPTIN [Suspect]
     Active Substance: TRASTUZUMAB
     Dosage: 390 MILLIGRAM, Q3W
  284. HERCEPTIN [Suspect]
     Active Substance: TRASTUZUMAB
     Dosage: 390 MILLIGRAM, Q3W
  285. ADO-TRASTUZUMAB EMTANSINE [Suspect]
     Active Substance: ADO-TRASTUZUMAB EMTANSINE
     Indication: Breast cancer metastatic
     Dosage: 810 MILLIGRAM, Q3W
     Dates: start: 20190306, end: 20190909
  286. ADO-TRASTUZUMAB EMTANSINE [Suspect]
     Active Substance: ADO-TRASTUZUMAB EMTANSINE
     Dosage: 810 MILLIGRAM, Q3W
     Route: 042
     Dates: start: 20190306, end: 20190909
  287. ADO-TRASTUZUMAB EMTANSINE [Suspect]
     Active Substance: ADO-TRASTUZUMAB EMTANSINE
     Dosage: 810 MILLIGRAM, Q3W
     Route: 042
     Dates: start: 20190306, end: 20190909
  288. ADO-TRASTUZUMAB EMTANSINE [Suspect]
     Active Substance: ADO-TRASTUZUMAB EMTANSINE
     Dosage: 810 MILLIGRAM, Q3W
     Dates: start: 20190306, end: 20190909
  289. DOXORUBICIN HYDROCHLORIDE [Suspect]
     Active Substance: DOXORUBICIN HYDROCHLORIDE
     Indication: Breast cancer metastatic
     Dosage: 104.4 MILLIGRAM, QD
     Dates: start: 20210608, end: 20210608
  290. DOXORUBICIN HYDROCHLORIDE [Suspect]
     Active Substance: DOXORUBICIN HYDROCHLORIDE
     Dosage: 104.4 MILLIGRAM, QD
     Route: 042
     Dates: start: 20210608, end: 20210608
  291. DOXORUBICIN HYDROCHLORIDE [Suspect]
     Active Substance: DOXORUBICIN HYDROCHLORIDE
     Dosage: 104.4 MILLIGRAM, QD
     Route: 042
     Dates: start: 20210608, end: 20210608
  292. DOXORUBICIN HYDROCHLORIDE [Suspect]
     Active Substance: DOXORUBICIN HYDROCHLORIDE
     Dosage: 104.4 MILLIGRAM, QD
     Dates: start: 20210608, end: 20210608
  293. ACETAMINOPHEN [Suspect]
     Active Substance: ACETAMINOPHEN
     Indication: Pseudomonal sepsis
     Dosage: UNK
     Dates: start: 20200506, end: 20210622
  294. ACETAMINOPHEN [Suspect]
     Active Substance: ACETAMINOPHEN
     Dosage: UNK
     Route: 065
     Dates: start: 20200506, end: 20210622
  295. ACETAMINOPHEN [Suspect]
     Active Substance: ACETAMINOPHEN
     Dosage: UNK
     Route: 065
     Dates: start: 20200506, end: 20210622
  296. ACETAMINOPHEN [Suspect]
     Active Substance: ACETAMINOPHEN
     Dosage: UNK
     Dates: start: 20200506, end: 20210622
  297. FULVESTRANT [Suspect]
     Active Substance: FULVESTRANT
     Indication: Breast cancer metastatic
     Dosage: 500 MILLIGRAM, QMO
     Dates: start: 20171116, end: 20191001
  298. FULVESTRANT [Suspect]
     Active Substance: FULVESTRANT
     Dosage: 500 MILLIGRAM, QMO
     Dates: start: 20171116, end: 20191001
  299. FULVESTRANT [Suspect]
     Active Substance: FULVESTRANT
     Dosage: 500 MILLIGRAM, QMO
     Route: 030
     Dates: start: 20171116, end: 20191001
  300. FULVESTRANT [Suspect]
     Active Substance: FULVESTRANT
     Dosage: 500 MILLIGRAM, QMO
     Route: 030
     Dates: start: 20171116, end: 20191001
  301. FULVESTRANT [Suspect]
     Active Substance: FULVESTRANT
     Dosage: 500 MILLIGRAM, BID
     Dates: start: 20171002, end: 20171115
  302. FULVESTRANT [Suspect]
     Active Substance: FULVESTRANT
     Dosage: 500 MILLIGRAM, BID
     Dates: start: 20171002, end: 20171115
  303. FULVESTRANT [Suspect]
     Active Substance: FULVESTRANT
     Dosage: 500 MILLIGRAM, BID
     Route: 030
     Dates: start: 20171002, end: 20171115
  304. FULVESTRANT [Suspect]
     Active Substance: FULVESTRANT
     Dosage: 500 MILLIGRAM, BID
     Route: 030
     Dates: start: 20171002, end: 20171115
  305. LAPATINIB [Suspect]
     Active Substance: LAPATINIB
     Indication: Breast cancer metastatic
     Dosage: 1250 MILLIGRAM, QD
     Route: 061
     Dates: start: 20191002, end: 20200107
  306. LAPATINIB [Suspect]
     Active Substance: LAPATINIB
     Indication: Breast cancer
     Dosage: 1250 MILLIGRAM, QD
     Route: 061
     Dates: start: 20191002, end: 20200107
  307. LAPATINIB [Suspect]
     Active Substance: LAPATINIB
     Dosage: 1250 MILLIGRAM, QD
     Route: 048
     Dates: start: 20191002, end: 20200107
  308. LAPATINIB [Suspect]
     Active Substance: LAPATINIB
     Dosage: 1250 MILLIGRAM, QD
     Route: 048
     Dates: start: 20191002, end: 20200107
  309. LAPATINIB [Suspect]
     Active Substance: LAPATINIB
     Dosage: UNK
  310. LAPATINIB [Suspect]
     Active Substance: LAPATINIB
     Dosage: UNK
  311. LAPATINIB [Suspect]
     Active Substance: LAPATINIB
     Dosage: UNK
     Route: 065
  312. LAPATINIB [Suspect]
     Active Substance: LAPATINIB
     Dosage: UNK
     Route: 065
  313. DOXIL [Suspect]
     Active Substance: DOXORUBICIN HYDROCHLORIDE
     Indication: HER2 positive breast cancer
     Dosage: 104.4 MILLIGRAM, QD
     Dates: start: 20210608, end: 20210608
  314. DOXIL [Suspect]
     Active Substance: DOXORUBICIN HYDROCHLORIDE
     Indication: Breast cancer metastatic
     Dosage: 104.4 MILLIGRAM, QD
     Route: 042
     Dates: start: 20210608, end: 20210608
  315. DOXIL [Suspect]
     Active Substance: DOXORUBICIN HYDROCHLORIDE
     Dosage: 104.4 MILLIGRAM, QD
     Route: 042
     Dates: start: 20210608, end: 20210608
  316. DOXIL [Suspect]
     Active Substance: DOXORUBICIN HYDROCHLORIDE
     Dosage: 104.4 MILLIGRAM, QD
     Dates: start: 20210608, end: 20210608
  317. FASLODEX [Suspect]
     Active Substance: FULVESTRANT
     Indication: Breast cancer
     Dosage: 500 MILLIGRAM, MONTHLY
     Dates: start: 20171002, end: 20171115
  318. FASLODEX [Suspect]
     Active Substance: FULVESTRANT
     Dosage: 500 MILLIGRAM, MONTHLY
     Route: 058
     Dates: start: 20171002, end: 20171115
  319. FASLODEX [Suspect]
     Active Substance: FULVESTRANT
     Dosage: 500 MILLIGRAM, MONTHLY
     Route: 058
     Dates: start: 20171002, end: 20171115
  320. FASLODEX [Suspect]
     Active Substance: FULVESTRANT
     Dosage: 500 MILLIGRAM, MONTHLY
     Dates: start: 20171002, end: 20171115
  321. ENHERTU [Suspect]
     Active Substance: FAM-TRASTUZUMAB DERUXTECAN-NXKI
     Indication: Breast cancer metastatic
     Dosage: 624 MILLIGRAM, QD
     Dates: start: 20200814, end: 20201015
  322. ENHERTU [Suspect]
     Active Substance: FAM-TRASTUZUMAB DERUXTECAN-NXKI
     Dosage: 624 MILLIGRAM, QD
     Route: 042
     Dates: start: 20200814, end: 20201015
  323. ENHERTU [Suspect]
     Active Substance: FAM-TRASTUZUMAB DERUXTECAN-NXKI
     Dosage: 624 MILLIGRAM, QD
     Route: 042
     Dates: start: 20200814, end: 20201015
  324. ENHERTU [Suspect]
     Active Substance: FAM-TRASTUZUMAB DERUXTECAN-NXKI
     Dosage: 624 MILLIGRAM, QD
     Dates: start: 20200814, end: 20201015
  325. TUCATINIB [Suspect]
     Active Substance: TUCATINIB
     Indication: Breast cancer metastatic
     Dosage: 300 MG, BID (0.5 DAY)
     Route: 061
     Dates: start: 20201230, end: 20210210
  326. TUCATINIB [Suspect]
     Active Substance: TUCATINIB
     Dosage: 300 MG, BID (0.5 DAY)
     Route: 048
     Dates: start: 20201230, end: 20210210
  327. TUCATINIB [Suspect]
     Active Substance: TUCATINIB
     Dosage: 300 MG, BID (0.5 DAY)
     Route: 048
     Dates: start: 20201230, end: 20210210
  328. TUCATINIB [Suspect]
     Active Substance: TUCATINIB
     Dosage: 300 MG, BID (0.5 DAY)
     Route: 061
     Dates: start: 20201230, end: 20210210
  329. CARBOXYMETHYLCELLULOSE SODIUM [Suspect]
     Active Substance: CARBOXYMETHYLCELLULOSE SODIUM
     Indication: Product used for unknown indication
     Dosage: UNK
  330. CARBOXYMETHYLCELLULOSE SODIUM [Suspect]
     Active Substance: CARBOXYMETHYLCELLULOSE SODIUM
     Dosage: UNK
     Route: 065
  331. CARBOXYMETHYLCELLULOSE SODIUM [Suspect]
     Active Substance: CARBOXYMETHYLCELLULOSE SODIUM
     Dosage: UNK
     Route: 065
  332. CARBOXYMETHYLCELLULOSE SODIUM [Suspect]
     Active Substance: CARBOXYMETHYLCELLULOSE SODIUM
     Dosage: UNK
  333. NAVELBINE [Suspect]
     Active Substance: VINORELBINE TARTRATE
     Indication: Breast cancer metastatic
     Dosage: 45 MILLIGRAM, Q3W
     Dates: start: 20200422, end: 20200722
  334. NAVELBINE [Suspect]
     Active Substance: VINORELBINE TARTRATE
     Dosage: 45 MILLIGRAM, Q3W
     Route: 042
     Dates: start: 20200422, end: 20200722
  335. NAVELBINE [Suspect]
     Active Substance: VINORELBINE TARTRATE
     Dosage: 45 MILLIGRAM, Q3W
     Route: 042
     Dates: start: 20200422, end: 20200722
  336. NAVELBINE [Suspect]
     Active Substance: VINORELBINE TARTRATE
     Dosage: 45 MILLIGRAM, Q3W
     Dates: start: 20200422, end: 20200722
  337. VINORELBINE [Suspect]
     Active Substance: VINORELBINE TARTRATE
     Indication: Breast cancer metastatic
     Dosage: 45 MILLIGRAM, Q3W
     Dates: start: 20200422, end: 20200722
  338. VINORELBINE [Suspect]
     Active Substance: VINORELBINE TARTRATE
     Dosage: 45 MILLIGRAM, Q3W
     Route: 042
     Dates: start: 20200422, end: 20200722
  339. VINORELBINE [Suspect]
     Active Substance: VINORELBINE TARTRATE
     Dosage: 45 MILLIGRAM, Q3W
     Route: 042
     Dates: start: 20200422, end: 20200722
  340. VINORELBINE [Suspect]
     Active Substance: VINORELBINE TARTRATE
     Dosage: 45 MILLIGRAM, Q3W
     Dates: start: 20200422, end: 20200722
  341. PEGFILGRASTIM [Suspect]
     Active Substance: PEGFILGRASTIM
     Indication: Product used for unknown indication
     Dosage: UNK
     Dates: start: 20210610, end: 20210610
  342. PEGFILGRASTIM [Suspect]
     Active Substance: PEGFILGRASTIM
     Dosage: UNK
     Route: 065
     Dates: start: 20210610, end: 20210610
  343. PEGFILGRASTIM [Suspect]
     Active Substance: PEGFILGRASTIM
     Dosage: UNK
     Route: 065
     Dates: start: 20210610, end: 20210610
  344. PEGFILGRASTIM [Suspect]
     Active Substance: PEGFILGRASTIM
     Dosage: UNK
     Dates: start: 20210610, end: 20210610
  345. XELODA [Suspect]
     Active Substance: CAPECITABINE
     Indication: Breast cancer metastatic
     Dosage: 2000 MILLIGRAM, QD,DAILY FOR 2 WEEKS THEN PAUSE FOR 1 WEEK
     Route: 048
     Dates: start: 20201230, end: 20210203
  346. XELODA [Suspect]
     Active Substance: CAPECITABINE
     Dosage: 2000 MILLIGRAM, QD,DAILY FOR 2 WEEKS THEN PAUSE FOR 1 WEEK
     Route: 061
     Dates: start: 20201230, end: 20210203
  347. XELODA [Suspect]
     Active Substance: CAPECITABINE
     Dosage: 2000 MILLIGRAM, QD,DAILY FOR 2 WEEKS THEN PAUSE FOR 1 WEEK
     Route: 061
     Dates: start: 20201230, end: 20210203
  348. XELODA [Suspect]
     Active Substance: CAPECITABINE
     Dosage: 2000 MILLIGRAM, QD,DAILY FOR 2 WEEKS THEN PAUSE FOR 1 WEEK
     Route: 048
     Dates: start: 20201230, end: 20210203
  349. XELODA [Suspect]
     Active Substance: CAPECITABINE
     Dosage: 3500 MILLIGRAM, QD
     Route: 048
     Dates: start: 20210210, end: 20210224
  350. XELODA [Suspect]
     Active Substance: CAPECITABINE
     Dosage: 3500 MILLIGRAM, QD
     Route: 061
     Dates: start: 20210210, end: 20210224
  351. XELODA [Suspect]
     Active Substance: CAPECITABINE
     Dosage: 3500 MILLIGRAM, QD
     Route: 061
     Dates: start: 20210210, end: 20210224
  352. XELODA [Suspect]
     Active Substance: CAPECITABINE
     Dosage: 3500 MILLIGRAM, QD
     Route: 048
     Dates: start: 20210210, end: 20210224
  353. XELODA [Suspect]
     Active Substance: CAPECITABINE
     Dosage: 3500 MILLIGRAM, QD
     Route: 061
     Dates: start: 20191002, end: 20200107
  354. XELODA [Suspect]
     Active Substance: CAPECITABINE
     Dosage: 3500 MILLIGRAM, QD
     Route: 061
     Dates: start: 20191002, end: 20200107
  355. XELODA [Suspect]
     Active Substance: CAPECITABINE
     Dosage: 3500 MILLIGRAM, QD
     Route: 048
     Dates: start: 20191002, end: 20200107
  356. XELODA [Suspect]
     Active Substance: CAPECITABINE
     Dosage: 3500 MILLIGRAM, QD
     Route: 048
     Dates: start: 20191002, end: 20200107
  357. XELODA [Suspect]
     Active Substance: CAPECITABINE
     Dosage: 3000 MILLIGRAM, QD
     Route: 061
     Dates: start: 20200108, end: 20200421
  358. XELODA [Suspect]
     Active Substance: CAPECITABINE
     Dosage: 3000 MILLIGRAM, QD
     Route: 061
     Dates: start: 20200108, end: 20200421
  359. XELODA [Suspect]
     Active Substance: CAPECITABINE
     Dosage: 3000 MILLIGRAM, QD
     Route: 048
     Dates: start: 20200108, end: 20200421
  360. XELODA [Suspect]
     Active Substance: CAPECITABINE
     Dosage: 3000 MILLIGRAM, QD
     Route: 048
     Dates: start: 20200108, end: 20200421
  361. XGEVA [Suspect]
     Active Substance: DENOSUMAB
     Indication: Breast cancer metastatic
     Dosage: 120 MILLIGRAM, Q28D
     Dates: start: 20201230, end: 20210210
  362. XGEVA [Suspect]
     Active Substance: DENOSUMAB
     Dosage: 120 MILLIGRAM, Q28D
     Dates: start: 20201230, end: 20210210
  363. XGEVA [Suspect]
     Active Substance: DENOSUMAB
     Dosage: 120 MILLIGRAM, Q28D
     Route: 065
     Dates: start: 20201230, end: 20210210
  364. XGEVA [Suspect]
     Active Substance: DENOSUMAB
     Dosage: 120 MILLIGRAM, Q28D
     Route: 065
     Dates: start: 20201230, end: 20210210
  365. XGEVA [Suspect]
     Active Substance: DENOSUMAB
     Dosage: 120 MILLIGRAM, MONTHLY
     Dates: start: 20170202, end: 20210521
  366. XGEVA [Suspect]
     Active Substance: DENOSUMAB
     Dosage: 120 MILLIGRAM, MONTHLY
     Dates: start: 20170202, end: 20210521
  367. XGEVA [Suspect]
     Active Substance: DENOSUMAB
     Dosage: 120 MILLIGRAM, MONTHLY
     Route: 042
     Dates: start: 20170202, end: 20210521
  368. XGEVA [Suspect]
     Active Substance: DENOSUMAB
     Dosage: 120 MILLIGRAM, MONTHLY
     Route: 042
     Dates: start: 20170202, end: 20210521
  369. OLIVE OIL [Concomitant]
     Active Substance: OLIVE OIL
     Indication: Paronychia
     Dosage: UNK
     Dates: start: 20191002, end: 20200512
  370. OLIVE OIL [Concomitant]
     Active Substance: OLIVE OIL
     Dosage: UNK
     Route: 065
     Dates: start: 20191002, end: 20200512
  371. OLIVE OIL [Concomitant]
     Active Substance: OLIVE OIL
     Dosage: UNK
     Route: 065
     Dates: start: 20191002, end: 20200512
  372. OLIVE OIL [Concomitant]
     Active Substance: OLIVE OIL
     Dosage: UNK
     Dates: start: 20191002, end: 20200512
  373. CEFEPIME [Concomitant]
     Active Substance: CEFEPIME HYDROCHLORIDE
     Indication: Product used for unknown indication
     Dosage: UNK
  374. CEFEPIME [Concomitant]
     Active Substance: CEFEPIME HYDROCHLORIDE
     Dosage: UNK
     Route: 065
  375. CEFEPIME [Concomitant]
     Active Substance: CEFEPIME HYDROCHLORIDE
     Dosage: UNK
     Route: 065
  376. CEFEPIME [Concomitant]
     Active Substance: CEFEPIME HYDROCHLORIDE
     Dosage: UNK
  377. POLYETHYLENE GLYCOL 3350\POTASSIUM CHLORIDE\SODIUM BICARBONATE\SODIUM [Concomitant]
     Active Substance: POLYETHYLENE GLYCOL 3350\POTASSIUM CHLORIDE\SODIUM BICARBONATE\SODIUM CHLORIDE
     Indication: Product used for unknown indication
     Dosage: UNK
     Dates: start: 20210608, end: 20210616
  378. POLYETHYLENE GLYCOL 3350\POTASSIUM CHLORIDE\SODIUM BICARBONATE\SODIUM [Concomitant]
     Active Substance: POLYETHYLENE GLYCOL 3350\POTASSIUM CHLORIDE\SODIUM BICARBONATE\SODIUM CHLORIDE
     Dosage: UNK
     Dates: start: 20210608, end: 20210616
  379. POLYETHYLENE GLYCOL 3350\POTASSIUM CHLORIDE\SODIUM BICARBONATE\SODIUM [Concomitant]
     Active Substance: POLYETHYLENE GLYCOL 3350\POTASSIUM CHLORIDE\SODIUM BICARBONATE\SODIUM CHLORIDE
     Dosage: UNK
     Route: 065
     Dates: start: 20210608, end: 20210616
  380. POLYETHYLENE GLYCOL 3350\POTASSIUM CHLORIDE\SODIUM BICARBONATE\SODIUM [Concomitant]
     Active Substance: POLYETHYLENE GLYCOL 3350\POTASSIUM CHLORIDE\SODIUM BICARBONATE\SODIUM CHLORIDE
     Dosage: UNK
     Route: 065
     Dates: start: 20210608, end: 20210616
  381. POLYETHYLENE GLYCOL 3350\POTASSIUM CHLORIDE\SODIUM BICARBONATE\SODIUM [Concomitant]
     Active Substance: POLYETHYLENE GLYCOL 3350\POTASSIUM CHLORIDE\SODIUM BICARBONATE\SODIUM CHLORIDE
     Dosage: UNK
     Route: 061
     Dates: start: 20170709, end: 20170709
  382. POLYETHYLENE GLYCOL 3350\POTASSIUM CHLORIDE\SODIUM BICARBONATE\SODIUM [Concomitant]
     Active Substance: POLYETHYLENE GLYCOL 3350\POTASSIUM CHLORIDE\SODIUM BICARBONATE\SODIUM CHLORIDE
     Dosage: UNK
     Route: 061
     Dates: start: 20170709, end: 20170709
  383. POLYETHYLENE GLYCOL 3350\POTASSIUM CHLORIDE\SODIUM BICARBONATE\SODIUM [Concomitant]
     Active Substance: POLYETHYLENE GLYCOL 3350\POTASSIUM CHLORIDE\SODIUM BICARBONATE\SODIUM CHLORIDE
     Dosage: UNK
     Route: 048
     Dates: start: 20170709, end: 20170709
  384. POLYETHYLENE GLYCOL 3350\POTASSIUM CHLORIDE\SODIUM BICARBONATE\SODIUM [Concomitant]
     Active Substance: POLYETHYLENE GLYCOL 3350\POTASSIUM CHLORIDE\SODIUM BICARBONATE\SODIUM CHLORIDE
     Dosage: UNK
     Route: 048
     Dates: start: 20170709, end: 20170709
  385. SCOTTOPECT [Concomitant]
     Indication: Cough
     Dosage: ONGOING = NOT CHECKED
     Dates: start: 20210611, end: 20210613
  386. SCOTTOPECT [Concomitant]
     Dosage: ONGOING = NOT CHECKED
     Route: 065
     Dates: start: 20210611, end: 20210613
  387. SCOTTOPECT [Concomitant]
     Dosage: ONGOING = NOT CHECKED
     Route: 065
     Dates: start: 20210611, end: 20210613
  388. SCOTTOPECT [Concomitant]
     Dosage: ONGOING = NOT CHECKED
     Dates: start: 20210611, end: 20210613
  389. Paspertin [Concomitant]
     Indication: Gastrointestinal disorder
     Dosage: UNK
     Dates: start: 20210608, end: 20210610
  390. Paspertin [Concomitant]
     Dosage: UNK
     Dates: start: 20210608, end: 20210610
  391. Paspertin [Concomitant]
     Dosage: UNK
     Route: 065
     Dates: start: 20210608, end: 20210610
  392. Paspertin [Concomitant]
     Dosage: UNK
     Route: 065
     Dates: start: 20210608, end: 20210610
  393. Paspertin [Concomitant]
     Dosage: UNK
     Dates: start: 20200506, end: 20201212
  394. Paspertin [Concomitant]
     Dosage: UNK
     Dates: start: 20200506, end: 20201212
  395. Paspertin [Concomitant]
     Dosage: UNK
     Route: 065
     Dates: start: 20200506, end: 20201212
  396. Paspertin [Concomitant]
     Dosage: UNK
     Route: 065
     Dates: start: 20200506, end: 20201212
  397. Paspertin [Concomitant]
     Dosage: UNK
     Dates: start: 20210611, end: 20210623
  398. Paspertin [Concomitant]
     Dosage: UNK
     Route: 065
     Dates: start: 20210611, end: 20210623
  399. Paspertin [Concomitant]
     Dosage: UNK
     Dates: start: 20210611, end: 20210623
  400. Paspertin [Concomitant]
     Dosage: UNK
     Route: 065
     Dates: start: 20210611, end: 20210623
  401. MORPHINE [Concomitant]
     Active Substance: MORPHINE
     Dosage: UNK
  402. MORPHINE [Concomitant]
     Active Substance: MORPHINE
     Dosage: UNK
     Route: 065
  403. MORPHINE [Concomitant]
     Active Substance: MORPHINE
     Dosage: UNK
     Route: 065
  404. MORPHINE [Concomitant]
     Active Substance: MORPHINE
     Dosage: UNK
  405. ALPRAZOLAM [Concomitant]
     Active Substance: ALPRAZOLAM
     Indication: Restlessness
     Dosage: ONGOING = NOT CHECKED
     Dates: start: 20210613, end: 20210615
  406. ALPRAZOLAM [Concomitant]
     Active Substance: ALPRAZOLAM
     Dosage: ONGOING = NOT CHECKED
     Route: 065
     Dates: start: 20210613, end: 20210615
  407. ALPRAZOLAM [Concomitant]
     Active Substance: ALPRAZOLAM
     Dosage: ONGOING = NOT CHECKED
     Route: 065
     Dates: start: 20210613, end: 20210615
  408. ALPRAZOLAM [Concomitant]
     Active Substance: ALPRAZOLAM
     Dosage: ONGOING = NOT CHECKED
     Dates: start: 20210613, end: 20210615
  409. HYDROMORPHONE HYDROCHLORIDE [Concomitant]
     Active Substance: HYDROMORPHONE HYDROCHLORIDE
     Dosage: ONGOING = NOT CHECKED
     Dates: start: 20210611, end: 20210615
  410. HYDROMORPHONE HYDROCHLORIDE [Concomitant]
     Active Substance: HYDROMORPHONE HYDROCHLORIDE
     Dosage: ONGOING = NOT CHECKED
     Route: 065
     Dates: start: 20210611, end: 20210615
  411. HYDROMORPHONE HYDROCHLORIDE [Concomitant]
     Active Substance: HYDROMORPHONE HYDROCHLORIDE
     Dosage: ONGOING = NOT CHECKED
     Route: 065
     Dates: start: 20210611, end: 20210615
  412. HYDROMORPHONE HYDROCHLORIDE [Concomitant]
     Active Substance: HYDROMORPHONE HYDROCHLORIDE
     Dosage: ONGOING = NOT CHECKED
     Dates: start: 20210611, end: 20210615
  413. Novalgin [Concomitant]
     Dosage: ONGOING = NOT CHECKED
     Route: 061
     Dates: start: 20210608, end: 20210615
  414. Novalgin [Concomitant]
     Dosage: ONGOING = NOT CHECKED
     Route: 061
     Dates: start: 20210608, end: 20210615
  415. Novalgin [Concomitant]
     Dosage: ONGOING = NOT CHECKED
     Route: 048
     Dates: start: 20210608, end: 20210615
  416. Novalgin [Concomitant]
     Dosage: ONGOING = NOT CHECKED
     Route: 048
     Dates: start: 20210608, end: 20210615
  417. Novalgin [Concomitant]
     Dosage: ONGOING = NOT CHECKED
     Route: 061
     Dates: start: 20210618, end: 20210618
  418. Novalgin [Concomitant]
     Dosage: ONGOING = NOT CHECKED
     Route: 061
     Dates: start: 20210618, end: 20210618
  419. Novalgin [Concomitant]
     Dosage: ONGOING = NOT CHECKED
     Route: 048
     Dates: start: 20210618, end: 20210618
  420. Novalgin [Concomitant]
     Dosage: ONGOING = NOT CHECKED
     Route: 048
     Dates: start: 20210618, end: 20210618
  421. ONDANSETRON HYDROCHLORIDE [Concomitant]
     Active Substance: ONDANSETRON HYDROCHLORIDE
     Indication: Gastrointestinal disorder
     Dosage: 8 MILLIGRAM ONDANSAN
     Route: 061
     Dates: start: 20170329, end: 20170809
  422. ONDANSETRON HYDROCHLORIDE [Concomitant]
     Active Substance: ONDANSETRON HYDROCHLORIDE
     Dosage: 8 MILLIGRAM ONDANSAN
     Route: 061
     Dates: start: 20170329, end: 20170809
  423. ONDANSETRON HYDROCHLORIDE [Concomitant]
     Active Substance: ONDANSETRON HYDROCHLORIDE
     Dosage: 8 MILLIGRAM ONDANSAN
     Route: 048
     Dates: start: 20170329, end: 20170809
  424. ONDANSETRON HYDROCHLORIDE [Concomitant]
     Active Substance: ONDANSETRON HYDROCHLORIDE
     Dosage: 8 MILLIGRAM ONDANSAN
     Route: 048
     Dates: start: 20170329, end: 20170809
  425. ONDANSETRON HYDROCHLORIDE [Concomitant]
     Active Substance: ONDANSETRON HYDROCHLORIDE
     Dosage: UNK
     Route: 061
  426. ONDANSETRON HYDROCHLORIDE [Concomitant]
     Active Substance: ONDANSETRON HYDROCHLORIDE
     Dosage: UNK
     Route: 061
  427. ONDANSETRON HYDROCHLORIDE [Concomitant]
     Active Substance: ONDANSETRON HYDROCHLORIDE
     Dosage: UNK
     Route: 048
  428. ONDANSETRON HYDROCHLORIDE [Concomitant]
     Active Substance: ONDANSETRON HYDROCHLORIDE
     Dosage: UNK
     Route: 048
  429. ONDANSETRON HYDROCHLORIDE [Concomitant]
     Active Substance: ONDANSETRON HYDROCHLORIDE
     Dosage: UNK
     Route: 061
     Dates: start: 20210611, end: 20210616
  430. ONDANSETRON HYDROCHLORIDE [Concomitant]
     Active Substance: ONDANSETRON HYDROCHLORIDE
     Dosage: UNK
     Route: 048
     Dates: start: 20210611, end: 20210616
  431. ONDANSETRON HYDROCHLORIDE [Concomitant]
     Active Substance: ONDANSETRON HYDROCHLORIDE
     Dosage: UNK
     Route: 061
     Dates: start: 20210611, end: 20210616
  432. ONDANSETRON HYDROCHLORIDE [Concomitant]
     Active Substance: ONDANSETRON HYDROCHLORIDE
     Dosage: UNK
     Route: 048
     Dates: start: 20210611, end: 20210616
  433. Cal c vita [Concomitant]
     Dosage: ONGOING = NOT CHECKED
     Dates: start: 20170203, end: 20210612
  434. Cal c vita [Concomitant]
     Dosage: ONGOING = NOT CHECKED
     Route: 065
     Dates: start: 20170203, end: 20210612
  435. Cal c vita [Concomitant]
     Dosage: ONGOING = NOT CHECKED
     Route: 065
     Dates: start: 20170203, end: 20210612
  436. Cal c vita [Concomitant]
     Dosage: ONGOING = NOT CHECKED
     Dates: start: 20170203, end: 20210612
  437. ZOFRAN [Concomitant]
     Active Substance: ONDANSETRON HYDROCHLORIDE
     Indication: Product used for unknown indication
     Dosage: UNK
     Dates: start: 20210612, end: 20210616
  438. ZOFRAN [Concomitant]
     Active Substance: ONDANSETRON HYDROCHLORIDE
     Indication: Gastrointestinal disorder
     Dosage: UNK
     Route: 065
     Dates: start: 20210612, end: 20210616
  439. ZOFRAN [Concomitant]
     Active Substance: ONDANSETRON HYDROCHLORIDE
     Dosage: UNK
     Route: 065
     Dates: start: 20210612, end: 20210616
  440. ZOFRAN [Concomitant]
     Active Substance: ONDANSETRON HYDROCHLORIDE
     Dosage: UNK
     Dates: start: 20210612, end: 20210616
  441. Halset [Concomitant]
     Indication: Cough
     Dosage: ONGOING = NOT CHECKED
     Dates: start: 20210611, end: 20210615
  442. Halset [Concomitant]
     Dosage: ONGOING = NOT CHECKED
     Route: 065
     Dates: start: 20210611, end: 20210615
  443. Halset [Concomitant]
     Dosage: ONGOING = NOT CHECKED
     Route: 065
     Dates: start: 20210611, end: 20210615
  444. Halset [Concomitant]
     Dosage: ONGOING = NOT CHECKED
     Dates: start: 20210611, end: 20210615
  445. EUTHYROX [Concomitant]
     Active Substance: LEVOTHYROXINE SODIUM
     Dosage: ONGOING = NOT CHECKED
     Route: 061
     Dates: start: 20170303, end: 20210615
  446. EUTHYROX [Concomitant]
     Active Substance: LEVOTHYROXINE SODIUM
     Dosage: ONGOING = NOT CHECKED
     Route: 048
     Dates: start: 20170303, end: 20210615
  447. EUTHYROX [Concomitant]
     Active Substance: LEVOTHYROXINE SODIUM
     Dosage: ONGOING = NOT CHECKED
     Route: 048
     Dates: start: 20170303, end: 20210615
  448. EUTHYROX [Concomitant]
     Active Substance: LEVOTHYROXINE SODIUM
     Dosage: ONGOING = NOT CHECKED
     Route: 061
     Dates: start: 20170303, end: 20210615
  449. VITAMIN C [Concomitant]
     Active Substance: ASCORBIC ACID
     Indication: Gastrointestinal disorder
     Dosage: ONGOING = NOT CHECKED
     Dates: start: 20210611, end: 20210614
  450. VITAMIN C [Concomitant]
     Active Substance: ASCORBIC ACID
     Dosage: ONGOING = NOT CHECKED
     Route: 065
     Dates: start: 20210611, end: 20210614
  451. VITAMIN C [Concomitant]
     Active Substance: ASCORBIC ACID
     Dosage: ONGOING = NOT CHECKED
     Route: 065
     Dates: start: 20210611, end: 20210614
  452. VITAMIN C [Concomitant]
     Active Substance: ASCORBIC ACID
     Dosage: ONGOING = NOT CHECKED
     Dates: start: 20210611, end: 20210614
  453. ONDANSETRON [Concomitant]
     Active Substance: ONDANSETRON
     Indication: Gastrointestinal disorder
     Dosage: ONGOING = NOT CHECKED
     Dates: start: 20210608, end: 20210610
  454. ONDANSETRON [Concomitant]
     Active Substance: ONDANSETRON
     Dosage: ONGOING = NOT CHECKED
     Route: 065
     Dates: start: 20210608, end: 20210610
  455. ONDANSETRON [Concomitant]
     Active Substance: ONDANSETRON
     Dosage: ONGOING = NOT CHECKED
     Route: 065
     Dates: start: 20210608, end: 20210610
  456. ONDANSETRON [Concomitant]
     Active Substance: ONDANSETRON
     Dosage: ONGOING = NOT CHECKED
     Dates: start: 20210608, end: 20210610
  457. Temesta [Concomitant]
     Indication: Restlessness
     Dosage: UNK
     Dates: start: 20210611, end: 20210621
  458. Temesta [Concomitant]
     Dosage: UNK
     Dates: start: 20210611, end: 20210621
  459. Temesta [Concomitant]
     Dosage: UNK
     Route: 065
     Dates: start: 20210611, end: 20210621
  460. Temesta [Concomitant]
     Dosage: UNK
     Route: 065
     Dates: start: 20210611, end: 20210621
  461. Temesta [Concomitant]
     Dosage: UNK
     Dates: start: 20210618, end: 20210623
  462. Temesta [Concomitant]
     Dosage: UNK
     Dates: start: 20210618, end: 20210623
  463. Temesta [Concomitant]
     Dosage: UNK
     Route: 065
     Dates: start: 20210618, end: 20210623
  464. Temesta [Concomitant]
     Dosage: UNK
     Route: 065
     Dates: start: 20210618, end: 20210623
  465. FENTANYL [Concomitant]
     Active Substance: FENTANYL
     Dosage: UNK UNK, BID
     Dates: start: 20200515
  466. FENTANYL [Concomitant]
     Active Substance: FENTANYL
     Dosage: UNK UNK, BID
     Route: 062
     Dates: start: 20200515
  467. FENTANYL [Concomitant]
     Active Substance: FENTANYL
     Dosage: UNK UNK, BID
     Route: 062
     Dates: start: 20200515
  468. FENTANYL [Concomitant]
     Active Substance: FENTANYL
     Dosage: UNK UNK, BID
     Dates: start: 20200515
  469. BUTYLSCOPOLAMINE BROMIDE [Concomitant]
     Active Substance: BUTYLSCOPOLAMINE BROMIDE
     Indication: Gastrointestinal disorder
     Dosage: ONGOING = NOT CHECKED
     Dates: start: 20210618, end: 20210618
  470. BUTYLSCOPOLAMINE BROMIDE [Concomitant]
     Active Substance: BUTYLSCOPOLAMINE BROMIDE
     Dosage: ONGOING = NOT CHECKED
     Route: 065
     Dates: start: 20210618, end: 20210618
  471. BUTYLSCOPOLAMINE BROMIDE [Concomitant]
     Active Substance: BUTYLSCOPOLAMINE BROMIDE
     Dosage: ONGOING = NOT CHECKED
     Route: 065
     Dates: start: 20210618, end: 20210618
  472. BUTYLSCOPOLAMINE BROMIDE [Concomitant]
     Active Substance: BUTYLSCOPOLAMINE BROMIDE
     Dosage: ONGOING = NOT CHECKED
     Dates: start: 20210618, end: 20210618
  473. Oleovit [Concomitant]
     Dosage: 30 DROP, ONCE EVERY 1 WK,1/12 MILLILITRE
     Route: 061
     Dates: start: 20170329, end: 20210615
  474. Oleovit [Concomitant]
     Dosage: 30 DROP, ONCE EVERY 1 WK,1/12 MILLILITRE
     Route: 048
     Dates: start: 20170329, end: 20210615
  475. Oleovit [Concomitant]
     Dosage: 30 DROP, ONCE EVERY 1 WK,1/12 MILLILITRE
     Route: 048
     Dates: start: 20170329, end: 20210615
  476. Oleovit [Concomitant]
     Dosage: 30 DROP, ONCE EVERY 1 WK,1/12 MILLILITRE
     Route: 061
     Dates: start: 20170329, end: 20210615
  477. Paracodin [Concomitant]
     Indication: Cough
     Dosage: 20 GTT DROPS
     Dates: start: 20170708, end: 20170709
  478. Paracodin [Concomitant]
     Dosage: 20 GTT DROPS
     Dates: start: 20170708, end: 20170709
  479. Paracodin [Concomitant]
     Dosage: 20 GTT DROPS
     Route: 065
     Dates: start: 20170708, end: 20170709
  480. Paracodin [Concomitant]
     Dosage: 20 GTT DROPS
     Route: 065
     Dates: start: 20170708, end: 20170709
  481. Paracodin [Concomitant]
     Dosage: 20 GTT DROPS
     Dates: start: 20210428, end: 20210615
  482. Paracodin [Concomitant]
     Dosage: 20 GTT DROPS
     Route: 065
     Dates: start: 20210428, end: 20210615
  483. Paracodin [Concomitant]
     Dosage: 20 GTT DROPS
     Dates: start: 20210428, end: 20210615
  484. Paracodin [Concomitant]
     Dosage: 20 GTT DROPS
     Route: 065
     Dates: start: 20210428, end: 20210615
  485. Paracodin [Concomitant]
     Dosage: UNK
     Dates: start: 20210608, end: 20210610
  486. Paracodin [Concomitant]
     Dosage: UNK
     Dates: start: 20210608, end: 20210610
  487. PANTOPRAZOLE [Concomitant]
     Active Substance: PANTOPRAZOLE
     Indication: Gastrointestinal disorder
     Dosage: ONGOING = NOT CHECKED
     Dates: start: 20210317, end: 20210623
  488. PANTOPRAZOLE [Concomitant]
     Active Substance: PANTOPRAZOLE
     Dosage: ONGOING = NOT CHECKED
     Dates: start: 20210317, end: 20210623
  489. PANTOPRAZOLE [Concomitant]
     Active Substance: PANTOPRAZOLE
     Dosage: ONGOING = NOT CHECKED
     Route: 065
     Dates: start: 20210317, end: 20210623
  490. PANTOPRAZOLE [Concomitant]
     Active Substance: PANTOPRAZOLE
     Dosage: ONGOING = NOT CHECKED
     Route: 065
     Dates: start: 20210317, end: 20210623
  491. PANTOPRAZOLE [Concomitant]
     Active Substance: PANTOPRAZOLE
     Dosage: ONGOING = NOT CHECKED
     Dates: start: 20210618, end: 20210623
  492. PANTOPRAZOLE [Concomitant]
     Active Substance: PANTOPRAZOLE
     Dosage: ONGOING = NOT CHECKED
     Dates: start: 20210618, end: 20210623
  493. PANTOPRAZOLE [Concomitant]
     Active Substance: PANTOPRAZOLE
     Dosage: ONGOING = NOT CHECKED
     Route: 065
     Dates: start: 20210618, end: 20210623
  494. PANTOPRAZOLE [Concomitant]
     Active Substance: PANTOPRAZOLE
     Dosage: ONGOING = NOT CHECKED
     Route: 065
     Dates: start: 20210618, end: 20210623
  495. PANTOPRAZOLE [Concomitant]
     Active Substance: PANTOPRAZOLE
     Dosage: ONGOING = NOT CHECKED
     Dates: start: 20210608, end: 20210610
  496. PANTOPRAZOLE [Concomitant]
     Active Substance: PANTOPRAZOLE
     Dosage: ONGOING = NOT CHECKED
     Route: 065
     Dates: start: 20210608, end: 20210610
  497. PANTOPRAZOLE [Concomitant]
     Active Substance: PANTOPRAZOLE
     Dosage: ONGOING = NOT CHECKED
     Dates: start: 20210608, end: 20210610
  498. PANTOPRAZOLE [Concomitant]
     Active Substance: PANTOPRAZOLE
     Dosage: ONGOING = NOT CHECKED
     Route: 065
     Dates: start: 20210608, end: 20210610
  499. Leukichtan [Concomitant]
     Indication: Product used for unknown indication
     Dosage: 1 DOSAGE FORM, AS NEEDED
     Route: 048
     Dates: start: 20200430, end: 20200515
  500. Leukichtan [Concomitant]
     Dosage: 1 DOSAGE FORM, AS NEEDED
     Route: 061
     Dates: start: 20200430, end: 20200515
  501. Leukichtan [Concomitant]
     Dosage: 1 DOSAGE FORM, AS NEEDED
     Route: 061
     Dates: start: 20200430, end: 20200515
  502. Leukichtan [Concomitant]
     Dosage: 1 DOSAGE FORM, AS NEEDED
     Route: 048
     Dates: start: 20200430, end: 20200515
  503. DRONABINOL [Concomitant]
     Active Substance: DRONABINOL
     Indication: Gastrointestinal disorder
     Dosage: ONGOING = NOT CHECKED
     Dates: start: 20210608, end: 20210612
  504. DRONABINOL [Concomitant]
     Active Substance: DRONABINOL
     Dosage: ONGOING = NOT CHECKED
     Route: 065
     Dates: start: 20210608, end: 20210612
  505. DRONABINOL [Concomitant]
     Active Substance: DRONABINOL
     Dosage: ONGOING = NOT CHECKED
     Route: 065
     Dates: start: 20210608, end: 20210612
  506. DRONABINOL [Concomitant]
     Active Substance: DRONABINOL
     Dosage: ONGOING = NOT CHECKED
     Dates: start: 20210608, end: 20210612
  507. EDOXABAN TOSYLATE [Concomitant]
     Active Substance: EDOXABAN TOSYLATE
     Dosage: ONGOING = NOT CHECKED
     Dates: start: 20200613, end: 20210611
  508. EDOXABAN TOSYLATE [Concomitant]
     Active Substance: EDOXABAN TOSYLATE
     Dosage: ONGOING = NOT CHECKED
     Route: 065
     Dates: start: 20200613, end: 20210611
  509. EDOXABAN TOSYLATE [Concomitant]
     Active Substance: EDOXABAN TOSYLATE
     Dosage: ONGOING = NOT CHECKED
     Route: 065
     Dates: start: 20200613, end: 20210611
  510. EDOXABAN TOSYLATE [Concomitant]
     Active Substance: EDOXABAN TOSYLATE
     Dosage: ONGOING = NOT CHECKED
     Dates: start: 20200613, end: 20210611
  511. XGEVA [Concomitant]
     Active Substance: DENOSUMAB
     Dosage: UNK
  512. XGEVA [Concomitant]
     Active Substance: DENOSUMAB
     Dosage: UNK
     Route: 065
  513. XGEVA [Concomitant]
     Active Substance: DENOSUMAB
     Dosage: UNK
     Route: 065
  514. XGEVA [Concomitant]
     Active Substance: DENOSUMAB
     Dosage: UNK
  515. LORAZEPAM [Concomitant]
     Active Substance: LORAZEPAM
     Indication: Restlessness
     Dosage: ONGOING = NOT CHECKED
     Dates: start: 20210618, end: 20210623
  516. LORAZEPAM [Concomitant]
     Active Substance: LORAZEPAM
     Dosage: ONGOING = NOT CHECKED
     Route: 065
     Dates: start: 20210618, end: 20210623
  517. LORAZEPAM [Concomitant]
     Active Substance: LORAZEPAM
     Dosage: ONGOING = NOT CHECKED
     Route: 065
     Dates: start: 20210618, end: 20210623
  518. LORAZEPAM [Concomitant]
     Active Substance: LORAZEPAM
     Dosage: ONGOING = NOT CHECKED
     Dates: start: 20210618, end: 20210623
  519. PREGABALIN [Concomitant]
     Active Substance: PREGABALIN
     Indication: Product used for unknown indication
     Dosage: 6775 MG, ONGOING = NOT CHECKED
     Dates: start: 20190821, end: 20210616
  520. PREGABALIN [Concomitant]
     Active Substance: PREGABALIN
     Dosage: 6775 MG, ONGOING = NOT CHECKED
     Dates: start: 20190821, end: 20210616
  521. PREGABALIN [Concomitant]
     Active Substance: PREGABALIN
     Dosage: 6775 MG, ONGOING = NOT CHECKED
     Route: 065
     Dates: start: 20190821, end: 20210616
  522. PREGABALIN [Concomitant]
     Active Substance: PREGABALIN
     Dosage: 6775 MG, ONGOING = NOT CHECKED
     Route: 065
     Dates: start: 20190821, end: 20210616
  523. PREGABALIN [Concomitant]
     Active Substance: PREGABALIN
     Dosage: 25 MILLIGRAM, QD
     Dates: start: 20170428, end: 20180123
  524. PREGABALIN [Concomitant]
     Active Substance: PREGABALIN
     Dosage: 25 MILLIGRAM, QD
     Dates: start: 20170428, end: 20180123
  525. PREGABALIN [Concomitant]
     Active Substance: PREGABALIN
     Dosage: 25 MILLIGRAM, QD
     Route: 065
     Dates: start: 20170428, end: 20180123
  526. PREGABALIN [Concomitant]
     Active Substance: PREGABALIN
     Dosage: 25 MILLIGRAM, QD
     Route: 065
     Dates: start: 20170428, end: 20180123
  527. ZIEXTENZO [Concomitant]
     Active Substance: PEGFILGRASTIM-BMEZ
     Dosage: ONGOING = NOT CHECKED
     Dates: start: 20210610, end: 20210610
  528. ZIEXTENZO [Concomitant]
     Active Substance: PEGFILGRASTIM-BMEZ
     Dosage: ONGOING = NOT CHECKED
     Route: 065
     Dates: start: 20210610, end: 20210610
  529. ZIEXTENZO [Concomitant]
     Active Substance: PEGFILGRASTIM-BMEZ
     Dosage: ONGOING = NOT CHECKED
     Route: 065
     Dates: start: 20210610, end: 20210610
  530. ZIEXTENZO [Concomitant]
     Active Substance: PEGFILGRASTIM-BMEZ
     Dosage: ONGOING = NOT CHECKED
     Dates: start: 20210610, end: 20210610
  531. LACTULOSE [Concomitant]
     Active Substance: LACTULOSE
     Dosage: UNK
  532. LACTULOSE [Concomitant]
     Active Substance: LACTULOSE
     Dosage: UNK
     Route: 065
  533. LACTULOSE [Concomitant]
     Active Substance: LACTULOSE
     Dosage: UNK
     Route: 065
  534. LACTULOSE [Concomitant]
     Active Substance: LACTULOSE
     Dosage: UNK
  535. Diproderm [Concomitant]
     Indication: Eczema
     Dosage: UNK
  536. Diproderm [Concomitant]
     Dosage: UNK
     Route: 065
  537. Diproderm [Concomitant]
     Dosage: UNK
     Route: 065
  538. Diproderm [Concomitant]
     Dosage: UNK
  539. PONVERIDOL [Concomitant]
     Indication: Gastrointestinal disorder
     Dosage: ONGOING = NOT CHECKED
     Dates: start: 20210618, end: 20210623
  540. PONVERIDOL [Concomitant]
     Dosage: ONGOING = NOT CHECKED
     Route: 065
     Dates: start: 20210618, end: 20210623
  541. PONVERIDOL [Concomitant]
     Dosage: ONGOING = NOT CHECKED
     Route: 065
     Dates: start: 20210618, end: 20210623
  542. PONVERIDOL [Concomitant]
     Dosage: ONGOING = NOT CHECKED
     Dates: start: 20210618, end: 20210623
  543. LOVENOX [Concomitant]
     Active Substance: ENOXAPARIN SODIUM
     Dosage: 40 MG, QD
     Dates: start: 20170224, end: 20171130
  544. LOVENOX [Concomitant]
     Active Substance: ENOXAPARIN SODIUM
     Dosage: 40 MG, QD
     Route: 065
     Dates: start: 20170224, end: 20171130
  545. LOVENOX [Concomitant]
     Active Substance: ENOXAPARIN SODIUM
     Dosage: 40 MG, QD
     Route: 065
     Dates: start: 20170224, end: 20171130
  546. LOVENOX [Concomitant]
     Active Substance: ENOXAPARIN SODIUM
     Dosage: 40 MG, QD
     Dates: start: 20170224, end: 20171130
  547. LEVOFLOXACIN [Concomitant]
     Active Substance: LEVOFLOXACIN
     Dosage: UNK
     Dates: start: 20200506, end: 20200512
  548. LEVOFLOXACIN [Concomitant]
     Active Substance: LEVOFLOXACIN
     Dosage: UNK
     Route: 065
     Dates: start: 20200506, end: 20200512
  549. LEVOFLOXACIN [Concomitant]
     Active Substance: LEVOFLOXACIN
     Dosage: UNK
     Route: 065
     Dates: start: 20200506, end: 20200512
  550. LEVOFLOXACIN [Concomitant]
     Active Substance: LEVOFLOXACIN
     Dosage: UNK
     Dates: start: 20200506, end: 20200512
  551. MORPHINE SULFATE [Concomitant]
     Active Substance: MORPHINE SULFATE
     Indication: Dyspnoea
     Dosage: ONGOING = NOT CHECKED
     Dates: start: 20210521, end: 20210616
  552. MORPHINE SULFATE [Concomitant]
     Active Substance: MORPHINE SULFATE
     Dosage: ONGOING = NOT CHECKED
     Dates: start: 20210521, end: 20210616
  553. MORPHINE SULFATE [Concomitant]
     Active Substance: MORPHINE SULFATE
     Dosage: ONGOING = NOT CHECKED
     Route: 065
     Dates: start: 20210521, end: 20210616
  554. MORPHINE SULFATE [Concomitant]
     Active Substance: MORPHINE SULFATE
     Dosage: ONGOING = NOT CHECKED
     Route: 065
     Dates: start: 20210521, end: 20210616
  555. MORPHINE SULFATE [Concomitant]
     Active Substance: MORPHINE SULFATE
     Dosage: ONGOING = NOT CHECKED
     Dates: start: 20210616, end: 20210623
  556. MORPHINE SULFATE [Concomitant]
     Active Substance: MORPHINE SULFATE
     Dosage: ONGOING = NOT CHECKED
     Dates: start: 20210616, end: 20210623
  557. MORPHINE SULFATE [Concomitant]
     Active Substance: MORPHINE SULFATE
     Dosage: ONGOING = NOT CHECKED
     Route: 065
     Dates: start: 20210616, end: 20210623
  558. MORPHINE SULFATE [Concomitant]
     Active Substance: MORPHINE SULFATE
     Dosage: ONGOING = NOT CHECKED
     Route: 065
     Dates: start: 20210616, end: 20210623
  559. Kalioral [Concomitant]
     Indication: Product used for unknown indication
     Dosage: UNK
     Route: 061
     Dates: start: 20200427, end: 20200428
  560. Kalioral [Concomitant]
     Dosage: UNK
     Route: 061
     Dates: start: 20200427, end: 20200428
  561. Kalioral [Concomitant]
     Dosage: UNK
     Route: 048
     Dates: start: 20200427, end: 20200428
  562. Kalioral [Concomitant]
     Dosage: UNK
     Route: 048
     Dates: start: 20200427, end: 20200428
  563. Kalioral [Concomitant]
     Dosage: UNK
     Dates: start: 20200608, end: 20200609
  564. Kalioral [Concomitant]
     Dosage: UNK
     Dates: start: 20200608, end: 20200609
  565. Kalioral [Concomitant]
     Dosage: UNK
     Route: 065
     Dates: start: 20200608, end: 20200609
  566. Kalioral [Concomitant]
     Dosage: UNK
     Route: 065
     Dates: start: 20200608, end: 20200609
  567. SILICON [Concomitant]
     Active Substance: SILICON
     Indication: Skin fissures
     Dosage: UNK
     Dates: start: 20200521, end: 20200602
  568. SILICON [Concomitant]
     Active Substance: SILICON
     Dosage: UNK
     Route: 065
     Dates: start: 20200521, end: 20200602
  569. SILICON [Concomitant]
     Active Substance: SILICON
     Dosage: UNK
     Route: 065
     Dates: start: 20200521, end: 20200602
  570. SILICON [Concomitant]
     Active Substance: SILICON
     Dosage: UNK
     Dates: start: 20200521, end: 20200602
  571. BETAISODONA [Concomitant]
     Active Substance: POVIDONE-IODINE
     Indication: Skin fissures
     Dosage: ONGOING NOT CHECKED
     Dates: start: 20200430, end: 20200515
  572. BETAISODONA [Concomitant]
     Active Substance: POVIDONE-IODINE
     Dosage: ONGOING NOT CHECKED
     Route: 065
     Dates: start: 20200430, end: 20200515
  573. BETAISODONA [Concomitant]
     Active Substance: POVIDONE-IODINE
     Dosage: ONGOING NOT CHECKED
     Route: 065
     Dates: start: 20200430, end: 20200515
  574. BETAISODONA [Concomitant]
     Active Substance: POVIDONE-IODINE
     Dosage: ONGOING NOT CHECKED
     Dates: start: 20200430, end: 20200515
  575. CALCIUM CARBONATE\CHOLECALCIFEROL [Concomitant]
     Active Substance: CALCIUM CARBONATE\CHOLECALCIFEROL
     Dosage: UNK
  576. CALCIUM CARBONATE\CHOLECALCIFEROL [Concomitant]
     Active Substance: CALCIUM CARBONATE\CHOLECALCIFEROL
     Dosage: UNK
     Route: 065
  577. CALCIUM CARBONATE\CHOLECALCIFEROL [Concomitant]
     Active Substance: CALCIUM CARBONATE\CHOLECALCIFEROL
     Dosage: UNK
     Route: 065
  578. CALCIUM CARBONATE\CHOLECALCIFEROL [Concomitant]
     Active Substance: CALCIUM CARBONATE\CHOLECALCIFEROL
     Dosage: UNK
  579. Aceclofenac and paracetamol [Concomitant]
     Dosage: ONGOING = NOT CHECKED
     Dates: start: 20210622, end: 20210622
  580. Aceclofenac and paracetamol [Concomitant]
     Dosage: ONGOING = NOT CHECKED
     Route: 065
     Dates: start: 20210622, end: 20210622
  581. Aceclofenac and paracetamol [Concomitant]
     Dosage: ONGOING = NOT CHECKED
     Route: 065
     Dates: start: 20210622, end: 20210622
  582. Aceclofenac and paracetamol [Concomitant]
     Dosage: ONGOING = NOT CHECKED
     Dates: start: 20210622, end: 20210622
  583. KCL [Concomitant]
     Active Substance: POTASSIUM CHLORIDE
     Dosage: 600 MG
     Route: 061
     Dates: start: 20170429, end: 20190305
  584. KCL [Concomitant]
     Active Substance: POTASSIUM CHLORIDE
     Dosage: 600 MG
     Route: 048
     Dates: start: 20170429, end: 20190305
  585. KCL [Concomitant]
     Active Substance: POTASSIUM CHLORIDE
     Dosage: 600 MG
     Route: 048
     Dates: start: 20170429, end: 20190305
  586. KCL [Concomitant]
     Active Substance: POTASSIUM CHLORIDE
     Dosage: 600 MG
     Route: 061
     Dates: start: 20170429, end: 20190305
  587. TAZOBACTAM [Concomitant]
     Active Substance: TAZOBACTAM
     Indication: Streptococcal sepsis
     Dosage: UNK
     Dates: start: 20200423, end: 20200504
  588. TAZOBACTAM [Concomitant]
     Active Substance: TAZOBACTAM
     Dosage: UNK
     Dates: start: 20200423, end: 20200504
  589. TAZOBACTAM [Concomitant]
     Active Substance: TAZOBACTAM
     Dosage: UNK
     Route: 065
     Dates: start: 20200423, end: 20200504
  590. TAZOBACTAM [Concomitant]
     Active Substance: TAZOBACTAM
     Dosage: UNK
     Route: 065
     Dates: start: 20200423, end: 20200504
  591. TAZOBACTAM [Concomitant]
     Active Substance: TAZOBACTAM
     Dosage: 4.5 GRAM
     Dates: start: 20170708, end: 20170710
  592. TAZOBACTAM [Concomitant]
     Active Substance: TAZOBACTAM
     Dosage: 4.5 GRAM
     Dates: start: 20170708, end: 20170710
  593. TAZOBACTAM [Concomitant]
     Active Substance: TAZOBACTAM
     Dosage: 4.5 GRAM
     Route: 065
     Dates: start: 20170708, end: 20170710
  594. TAZOBACTAM [Concomitant]
     Active Substance: TAZOBACTAM
     Dosage: 4.5 GRAM
     Route: 065
     Dates: start: 20170708, end: 20170710
  595. SODIUM CACODYLATE [Concomitant]
     Active Substance: SODIUM CACODYLATE
     Indication: Dyspnoea
     Dosage: UNK
     Dates: start: 20210521, end: 20210616
  596. SODIUM CACODYLATE [Concomitant]
     Active Substance: SODIUM CACODYLATE
     Dosage: UNK
     Dates: start: 20210521, end: 20210616
  597. SODIUM CACODYLATE [Concomitant]
     Active Substance: SODIUM CACODYLATE
     Dosage: UNK
     Route: 065
     Dates: start: 20210521, end: 20210616
  598. SODIUM CACODYLATE [Concomitant]
     Active Substance: SODIUM CACODYLATE
     Dosage: UNK
     Route: 065
     Dates: start: 20210521, end: 20210616
  599. SODIUM CACODYLATE [Concomitant]
     Active Substance: SODIUM CACODYLATE
     Dosage: UNK
     Dates: start: 20210616, end: 20210623
  600. SODIUM CACODYLATE [Concomitant]
     Active Substance: SODIUM CACODYLATE
     Dosage: UNK
     Dates: start: 20210616, end: 20210623
  601. SODIUM CACODYLATE [Concomitant]
     Active Substance: SODIUM CACODYLATE
     Dosage: UNK
     Route: 065
     Dates: start: 20210616, end: 20210623
  602. SODIUM CACODYLATE [Concomitant]
     Active Substance: SODIUM CACODYLATE
     Dosage: UNK
     Route: 065
     Dates: start: 20210616, end: 20210623
  603. AMOXICILLIN\CLAVULANATE POTASSIUM [Concomitant]
     Active Substance: AMOXICILLIN\CLAVULANATE POTASSIUM
     Dosage: 1 GRAM, BID
     Route: 061
     Dates: start: 20170711, end: 20170713
  604. AMOXICILLIN\CLAVULANATE POTASSIUM [Concomitant]
     Active Substance: AMOXICILLIN\CLAVULANATE POTASSIUM
     Dosage: 1 GRAM, BID
     Route: 061
     Dates: start: 20170711, end: 20170713
  605. AMOXICILLIN\CLAVULANATE POTASSIUM [Concomitant]
     Active Substance: AMOXICILLIN\CLAVULANATE POTASSIUM
     Dosage: 1 GRAM, BID
     Route: 048
     Dates: start: 20170711, end: 20170713
  606. AMOXICILLIN\CLAVULANATE POTASSIUM [Concomitant]
     Active Substance: AMOXICILLIN\CLAVULANATE POTASSIUM
     Dosage: 1 GRAM, BID
     Route: 048
     Dates: start: 20170711, end: 20170713
  607. AMOXICILLIN\CLAVULANATE POTASSIUM [Concomitant]
     Active Substance: AMOXICILLIN\CLAVULANATE POTASSIUM
     Dosage: UNK
     Dates: start: 20200604, end: 20200605
  608. AMOXICILLIN\CLAVULANATE POTASSIUM [Concomitant]
     Active Substance: AMOXICILLIN\CLAVULANATE POTASSIUM
     Dosage: UNK
     Dates: start: 20200604, end: 20200605
  609. AMOXICILLIN\CLAVULANATE POTASSIUM [Concomitant]
     Active Substance: AMOXICILLIN\CLAVULANATE POTASSIUM
     Dosage: UNK
     Route: 065
     Dates: start: 20200604, end: 20200605
  610. AMOXICILLIN\CLAVULANATE POTASSIUM [Concomitant]
     Active Substance: AMOXICILLIN\CLAVULANATE POTASSIUM
     Dosage: UNK
     Route: 065
     Dates: start: 20200604, end: 20200605
  611. AMPHOTERICIN B [Concomitant]
     Active Substance: AMPHOTERICIN B
     Dosage: UNK
  612. AMPHOTERICIN B [Concomitant]
     Active Substance: AMPHOTERICIN B
     Dosage: UNK
     Route: 065
  613. AMPHOTERICIN B [Concomitant]
     Active Substance: AMPHOTERICIN B
     Dosage: UNK
     Route: 065
  614. AMPHOTERICIN B [Concomitant]
     Active Substance: AMPHOTERICIN B
     Dosage: UNK
  615. ACTIMARIS [Concomitant]
     Indication: Product used for unknown indication
     Dosage: UNK
     Dates: start: 20200108, end: 20200128
  616. ACTIMARIS [Concomitant]
     Dosage: UNK
     Route: 065
     Dates: start: 20200108, end: 20200128
  617. ACTIMARIS [Concomitant]
     Dosage: UNK
     Route: 065
     Dates: start: 20200108, end: 20200128
  618. ACTIMARIS [Concomitant]
     Dosage: UNK
     Dates: start: 20200108, end: 20200128
  619. AMOXICILLIN\CLAVULANATE POTASSIUM [Concomitant]
     Active Substance: AMOXICILLIN\CLAVULANATE POTASSIUM
     Indication: Product used for unknown indication
     Dosage: UNK
     Route: 061
     Dates: start: 20181218, end: 20181222
  620. AMOXICILLIN\CLAVULANATE POTASSIUM [Concomitant]
     Active Substance: AMOXICILLIN\CLAVULANATE POTASSIUM
     Dosage: UNK
     Route: 048
     Dates: start: 20181218, end: 20181222
  621. AMOXICILLIN\CLAVULANATE POTASSIUM [Concomitant]
     Active Substance: AMOXICILLIN\CLAVULANATE POTASSIUM
     Dosage: UNK
     Route: 048
     Dates: start: 20181218, end: 20181222
  622. AMOXICILLIN\CLAVULANATE POTASSIUM [Concomitant]
     Active Substance: AMOXICILLIN\CLAVULANATE POTASSIUM
     Dosage: UNK
     Route: 061
     Dates: start: 20181218, end: 20181222
  623. AMPHO-MORONAL [Concomitant]
     Active Substance: AMPHOTERICIN B
     Indication: Product used for unknown indication
     Dosage: UNK
  624. AMPHO-MORONAL [Concomitant]
     Active Substance: AMPHOTERICIN B
     Dosage: UNK
     Route: 065
  625. AMPHO-MORONAL [Concomitant]
     Active Substance: AMPHOTERICIN B
     Dosage: UNK
     Route: 065
  626. AMPHO-MORONAL [Concomitant]
     Active Substance: AMPHOTERICIN B
     Dosage: UNK
  627. AUGMENTIN [Concomitant]
     Active Substance: AMOXICILLIN\CLAVULANATE POTASSIUM
     Indication: Product used for unknown indication
     Dosage: UNK
     Dates: start: 20170710, end: 20170710
  628. AUGMENTIN [Concomitant]
     Active Substance: AMOXICILLIN\CLAVULANATE POTASSIUM
     Dosage: UNK
     Route: 065
     Dates: start: 20170710, end: 20170710
  629. AUGMENTIN [Concomitant]
     Active Substance: AMOXICILLIN\CLAVULANATE POTASSIUM
     Dosage: UNK
     Route: 065
     Dates: start: 20170710, end: 20170710
  630. AUGMENTIN [Concomitant]
     Active Substance: AMOXICILLIN\CLAVULANATE POTASSIUM
     Dosage: UNK
     Dates: start: 20170710, end: 20170710
  631. CALCIUM CARBONATE\VITAMIN D [Concomitant]
     Active Substance: CALCIUM CARBONATE\VITAMIN D
     Indication: Product used for unknown indication
     Dosage: UNK
     Dates: start: 20170203, end: 20210612
  632. CALCIUM CARBONATE\VITAMIN D [Concomitant]
     Active Substance: CALCIUM CARBONATE\VITAMIN D
     Dosage: UNK
     Route: 065
     Dates: start: 20170203, end: 20210612
  633. CALCIUM CARBONATE\VITAMIN D [Concomitant]
     Active Substance: CALCIUM CARBONATE\VITAMIN D
     Dosage: UNK
     Route: 065
     Dates: start: 20170203, end: 20210612
  634. CALCIUM CARBONATE\VITAMIN D [Concomitant]
     Active Substance: CALCIUM CARBONATE\VITAMIN D
     Dosage: UNK
     Dates: start: 20170203, end: 20210612
  635. DROPERIDOL [Concomitant]
     Active Substance: DROPERIDOL
     Indication: Gastrointestinal disorder
     Dosage: UNK
     Dates: start: 20210612, end: 20210617
  636. DROPERIDOL [Concomitant]
     Active Substance: DROPERIDOL
     Dosage: UNK
     Route: 065
     Dates: start: 20210612, end: 20210617
  637. DROPERIDOL [Concomitant]
     Active Substance: DROPERIDOL
     Dosage: UNK
     Route: 065
     Dates: start: 20210612, end: 20210617
  638. DROPERIDOL [Concomitant]
     Active Substance: DROPERIDOL
     Dosage: UNK
     Dates: start: 20210612, end: 20210617
  639. DROPERIDOL [Concomitant]
     Active Substance: DROPERIDOL
     Indication: Restlessness
     Dosage: UNK
     Dates: start: 20210612, end: 20210617
  640. DROPERIDOL [Concomitant]
     Active Substance: DROPERIDOL
     Dosage: UNK
     Dates: start: 20210612, end: 20210617
  641. DROPERIDOL [Concomitant]
     Active Substance: DROPERIDOL
     Dosage: UNK
     Route: 065
     Dates: start: 20210612, end: 20210617
  642. DROPERIDOL [Concomitant]
     Active Substance: DROPERIDOL
     Dosage: UNK
     Route: 065
     Dates: start: 20210612, end: 20210617
  643. DROPERIDOL [Concomitant]
     Active Substance: DROPERIDOL
     Dosage: UNK
     Dates: start: 20210618, end: 20210623
  644. DROPERIDOL [Concomitant]
     Active Substance: DROPERIDOL
     Dosage: UNK
     Dates: start: 20210618, end: 20210623
  645. DROPERIDOL [Concomitant]
     Active Substance: DROPERIDOL
     Dosage: UNK
     Route: 065
     Dates: start: 20210618, end: 20210623
  646. DROPERIDOL [Concomitant]
     Active Substance: DROPERIDOL
     Dosage: UNK
     Route: 065
     Dates: start: 20210618, end: 20210623
  647. EMEND [Concomitant]
     Active Substance: APREPITANT
     Dosage: UNK
     Dates: start: 20200428, end: 20200430
  648. EMEND [Concomitant]
     Active Substance: APREPITANT
     Dosage: UNK
     Route: 065
     Dates: start: 20200428, end: 20200430
  649. EMEND [Concomitant]
     Active Substance: APREPITANT
     Dosage: UNK
     Route: 065
     Dates: start: 20200428, end: 20200430
  650. EMEND [Concomitant]
     Active Substance: APREPITANT
     Dosage: UNK
     Dates: start: 20200428, end: 20200430
  651. ELOMEL [Concomitant]
     Indication: Product used for unknown indication
     Dosage: UNK
  652. ELOMEL [Concomitant]
     Dosage: UNK
     Route: 065
  653. ELOMEL [Concomitant]
     Dosage: UNK
     Route: 065
  654. ELOMEL [Concomitant]
     Dosage: UNK
  655. NERIFORTE [Concomitant]
     Indication: Skin fissures
     Dosage: 1 DOSAGE FORM, AS NEEDED
     Route: 048
     Dates: start: 20200430, end: 20200515
  656. NERIFORTE [Concomitant]
     Dosage: 1 DOSAGE FORM, AS NEEDED
     Route: 061
     Dates: start: 20200430, end: 20200515
  657. NERIFORTE [Concomitant]
     Dosage: 1 DOSAGE FORM, AS NEEDED
     Route: 061
     Dates: start: 20200430, end: 20200515
  658. NERIFORTE [Concomitant]
     Dosage: 1 DOSAGE FORM, AS NEEDED
     Route: 048
     Dates: start: 20200430, end: 20200515
  659. FILGRASTIM [Concomitant]
     Active Substance: FILGRASTIM
     Dosage: UNK
     Dates: start: 20170704, end: 20170708
  660. FILGRASTIM [Concomitant]
     Active Substance: FILGRASTIM
     Dosage: UNK
     Dates: start: 20170704, end: 20170708
  661. FILGRASTIM [Concomitant]
     Active Substance: FILGRASTIM
     Dosage: UNK
     Route: 058
     Dates: start: 20170704, end: 20170708
  662. FILGRASTIM [Concomitant]
     Active Substance: FILGRASTIM
     Dosage: UNK
     Route: 058
     Dates: start: 20170704, end: 20170708
  663. FILGRASTIM [Concomitant]
     Active Substance: FILGRASTIM
     Dosage: UNK
  664. FILGRASTIM [Concomitant]
     Active Substance: FILGRASTIM
     Dosage: UNK
  665. FILGRASTIM [Concomitant]
     Active Substance: FILGRASTIM
     Dosage: UNK
     Route: 065
  666. FILGRASTIM [Concomitant]
     Active Substance: FILGRASTIM
     Dosage: UNK
     Route: 065
  667. DEXAMETHASONE [Concomitant]
     Active Substance: DEXAMETHASONE
     Indication: Brain oedema
     Dosage: ONGOING = NOT CHECKED
     Dates: start: 20171007, end: 20171008
  668. DEXAMETHASONE [Concomitant]
     Active Substance: DEXAMETHASONE
     Dosage: ONGOING = NOT CHECKED
     Dates: start: 20171007, end: 20171008
  669. DEXAMETHASONE [Concomitant]
     Active Substance: DEXAMETHASONE
     Dosage: ONGOING = NOT CHECKED
     Route: 065
     Dates: start: 20171007, end: 20171008
  670. DEXAMETHASONE [Concomitant]
     Active Substance: DEXAMETHASONE
     Dosage: ONGOING = NOT CHECKED
     Route: 065
     Dates: start: 20171007, end: 20171008
  671. DEXAMETHASONE [Concomitant]
     Active Substance: DEXAMETHASONE
     Dosage: 40 MILLIGRAM
     Dates: start: 20171004, end: 20171006
  672. DEXAMETHASONE [Concomitant]
     Active Substance: DEXAMETHASONE
     Dosage: 40 MILLIGRAM
     Dates: start: 20171004, end: 20171006
  673. DEXAMETHASONE [Concomitant]
     Active Substance: DEXAMETHASONE
     Dosage: 40 MILLIGRAM
     Route: 065
     Dates: start: 20171004, end: 20171006
  674. DEXAMETHASONE [Concomitant]
     Active Substance: DEXAMETHASONE
     Dosage: 40 MILLIGRAM
     Route: 065
     Dates: start: 20171004, end: 20171006
  675. DEXAMETHASONE [Concomitant]
     Active Substance: DEXAMETHASONE
     Indication: Brain oedema
     Dosage: UNK
     Route: 061
     Dates: start: 20170104, end: 20170106
  676. DEXAMETHASONE [Concomitant]
     Active Substance: DEXAMETHASONE
     Dosage: UNK
     Route: 048
     Dates: start: 20170104, end: 20170106
  677. DEXAMETHASONE [Concomitant]
     Active Substance: DEXAMETHASONE
     Dosage: UNK
     Route: 048
     Dates: start: 20170104, end: 20170106
  678. DEXAMETHASONE [Concomitant]
     Active Substance: DEXAMETHASONE
     Dosage: UNK
     Route: 061
     Dates: start: 20170104, end: 20170106
  679. DEXAMETHASONE [Concomitant]
     Active Substance: DEXAMETHASONE
     Dosage: UNK
     Dates: start: 20170107, end: 20170108
  680. DEXAMETHASONE [Concomitant]
     Active Substance: DEXAMETHASONE
     Dosage: UNK
     Route: 065
     Dates: start: 20170107, end: 20170108
  681. DEXAMETHASONE [Concomitant]
     Active Substance: DEXAMETHASONE
     Dosage: UNK
     Dates: start: 20170107, end: 20170108
  682. DEXAMETHASONE [Concomitant]
     Active Substance: DEXAMETHASONE
     Dosage: UNK
     Route: 065
     Dates: start: 20170107, end: 20170108
  683. DEXAMETHASONE [Concomitant]
     Active Substance: DEXAMETHASONE
     Dosage: UNK
     Route: 048
  684. DEXAMETHASONE [Concomitant]
     Active Substance: DEXAMETHASONE
     Dosage: UNK
     Route: 048
  685. DEXAMETHASONE [Concomitant]
     Active Substance: DEXAMETHASONE
     Dosage: UNK
     Route: 061
  686. DEXAMETHASONE [Concomitant]
     Active Substance: DEXAMETHASONE
     Dosage: UNK
     Route: 061
  687. FUROSEMIDE [Concomitant]
     Active Substance: FUROSEMIDE
     Indication: Product used for unknown indication
     Dosage: UNK
     Route: 065
     Dates: start: 20170611, end: 20170809
  688. FUROSEMIDE [Concomitant]
     Active Substance: FUROSEMIDE
     Dosage: UNK
     Dates: start: 20170611, end: 20170809
  689. FUROSEMIDE [Concomitant]
     Active Substance: FUROSEMIDE
     Dosage: UNK
     Dates: start: 20170611, end: 20170809
  690. FUROSEMIDE [Concomitant]
     Active Substance: FUROSEMIDE
     Dosage: UNK
     Route: 065
     Dates: start: 20170611, end: 20170809
  691. FUROSEMIDE [Concomitant]
     Active Substance: FUROSEMIDE
     Dosage: 20 MILLIGRAM
     Route: 065
     Dates: start: 20170713, end: 20170809
  692. FUROSEMIDE [Concomitant]
     Active Substance: FUROSEMIDE
     Dosage: 20 MILLIGRAM
     Dates: start: 20170713, end: 20170809
  693. FUROSEMIDE [Concomitant]
     Active Substance: FUROSEMIDE
     Dosage: 20 MILLIGRAM
     Dates: start: 20170713, end: 20170809
  694. FUROSEMIDE [Concomitant]
     Active Substance: FUROSEMIDE
     Dosage: 20 MILLIGRAM
     Route: 065
     Dates: start: 20170713, end: 20170809
  695. FUROSEMIDE [Concomitant]
     Active Substance: FUROSEMIDE
     Dosage: 20 MILLIGRAM
     Dates: start: 20170810, end: 20171213
  696. FUROSEMIDE [Concomitant]
     Active Substance: FUROSEMIDE
     Dosage: 20 MILLIGRAM
     Dates: start: 20170810, end: 20171213
  697. FUROSEMIDE [Concomitant]
     Active Substance: FUROSEMIDE
     Dosage: 20 MILLIGRAM
     Route: 065
     Dates: start: 20170810, end: 20171213
  698. FUROSEMIDE [Concomitant]
     Active Substance: FUROSEMIDE
     Dosage: 20 MILLIGRAM
     Route: 065
     Dates: start: 20170810, end: 20171213
  699. FUROSEMIDE [Concomitant]
     Active Substance: FUROSEMIDE
     Dosage: 40 MILLIGRAM
     Dates: start: 20170810, end: 20190212
  700. FUROSEMIDE [Concomitant]
     Active Substance: FUROSEMIDE
     Dosage: 40 MILLIGRAM
     Dates: start: 20170810, end: 20190212
  701. FUROSEMIDE [Concomitant]
     Active Substance: FUROSEMIDE
     Dosage: 40 MILLIGRAM
     Route: 065
     Dates: start: 20170810, end: 20190212
  702. FUROSEMIDE [Concomitant]
     Active Substance: FUROSEMIDE
     Dosage: 40 MILLIGRAM
     Route: 065
     Dates: start: 20170810, end: 20190212
  703. HYALURONATE SODIUM [Concomitant]
     Active Substance: HYALURONATE SODIUM
     Indication: Product used for unknown indication
     Dosage: UNK
  704. HYALURONATE SODIUM [Concomitant]
     Active Substance: HYALURONATE SODIUM
     Dosage: UNK
     Route: 065
  705. HYALURONATE SODIUM [Concomitant]
     Active Substance: HYALURONATE SODIUM
     Dosage: UNK
     Route: 065
  706. HYALURONATE SODIUM [Concomitant]
     Active Substance: HYALURONATE SODIUM
     Dosage: UNK
  707. BUTYLSCOPOLAMINE BROMIDE [Concomitant]
     Active Substance: BUTYLSCOPOLAMINE BROMIDE
     Indication: Gastrointestinal disorder
     Dosage: UNK
     Dates: start: 20210618, end: 20210618
  708. BUTYLSCOPOLAMINE BROMIDE [Concomitant]
     Active Substance: BUTYLSCOPOLAMINE BROMIDE
     Dosage: UNK
     Route: 065
     Dates: start: 20210618, end: 20210618
  709. BUTYLSCOPOLAMINE BROMIDE [Concomitant]
     Active Substance: BUTYLSCOPOLAMINE BROMIDE
     Dosage: UNK
     Route: 065
     Dates: start: 20210618, end: 20210618
  710. BUTYLSCOPOLAMINE BROMIDE [Concomitant]
     Active Substance: BUTYLSCOPOLAMINE BROMIDE
     Dosage: UNK
     Dates: start: 20210618, end: 20210618
  711. LEVOFLOXACIN [Concomitant]
     Active Substance: LEVOFLOXACIN
     Indication: Product used for unknown indication
     Dosage: UNK
  712. LEVOFLOXACIN [Concomitant]
     Active Substance: LEVOFLOXACIN
     Dosage: UNK
     Route: 065
  713. LEVOFLOXACIN [Concomitant]
     Active Substance: LEVOFLOXACIN
     Dosage: UNK
     Route: 065
  714. LEVOFLOXACIN [Concomitant]
     Active Substance: LEVOFLOXACIN
     Dosage: UNK
  715. LASIX [Concomitant]
     Active Substance: FUROSEMIDE
     Indication: Product used for unknown indication
     Dosage: UNK
     Dates: start: 20170611, end: 20170809
  716. LASIX [Concomitant]
     Active Substance: FUROSEMIDE
     Dosage: UNK
     Dates: start: 20170611, end: 20170809
  717. LASIX [Concomitant]
     Active Substance: FUROSEMIDE
     Dosage: UNK
     Route: 065
     Dates: start: 20170611, end: 20170809
  718. LASIX [Concomitant]
     Active Substance: FUROSEMIDE
     Dosage: UNK
     Route: 065
     Dates: start: 20170611, end: 20170809
  719. LASIX [Concomitant]
     Active Substance: FUROSEMIDE
     Dosage: 20 MILLIGRAM
     Dates: start: 20170713, end: 20170809
  720. LASIX [Concomitant]
     Active Substance: FUROSEMIDE
     Dosage: 20 MILLIGRAM
     Dates: start: 20170713, end: 20170809
  721. LASIX [Concomitant]
     Active Substance: FUROSEMIDE
     Dosage: 20 MILLIGRAM
     Route: 065
     Dates: start: 20170713, end: 20170809
  722. LASIX [Concomitant]
     Active Substance: FUROSEMIDE
     Dosage: 20 MILLIGRAM
     Route: 065
     Dates: start: 20170713, end: 20170809
  723. LASIX [Concomitant]
     Active Substance: FUROSEMIDE
     Dosage: 40 MILLIGRAM
     Dates: start: 20170810, end: 20190212
  724. LASIX [Concomitant]
     Active Substance: FUROSEMIDE
     Dosage: 40 MILLIGRAM
     Dates: start: 20170810, end: 20190212
  725. LASIX [Concomitant]
     Active Substance: FUROSEMIDE
     Dosage: 40 MILLIGRAM
     Route: 065
     Dates: start: 20170810, end: 20190212
  726. LASIX [Concomitant]
     Active Substance: FUROSEMIDE
     Dosage: 40 MILLIGRAM
     Route: 065
     Dates: start: 20170810, end: 20190212
  727. LASIX [Concomitant]
     Active Substance: FUROSEMIDE
     Dosage: 20 MILLIGRAM
     Dates: start: 20170810, end: 20171213
  728. LASIX [Concomitant]
     Active Substance: FUROSEMIDE
     Dosage: 20 MILLIGRAM
     Dates: start: 20170810, end: 20171213
  729. LASIX [Concomitant]
     Active Substance: FUROSEMIDE
     Dosage: 20 MILLIGRAM
     Route: 065
     Dates: start: 20170810, end: 20171213
  730. LASIX [Concomitant]
     Active Substance: FUROSEMIDE
     Dosage: 20 MILLIGRAM
     Route: 065
     Dates: start: 20170810, end: 20171213
  731. LASIX [Concomitant]
     Active Substance: FUROSEMIDE
     Dosage: UNK
     Dates: start: 20240810, end: 20240810
  732. LASIX [Concomitant]
     Active Substance: FUROSEMIDE
     Dosage: UNK
     Route: 065
     Dates: start: 20240810, end: 20240810
  733. LASIX [Concomitant]
     Active Substance: FUROSEMIDE
     Dosage: UNK
     Dates: start: 20240810, end: 20240810
  734. LASIX [Concomitant]
     Active Substance: FUROSEMIDE
     Dosage: UNK
     Route: 065
     Dates: start: 20240810, end: 20240810
  735. LIDOCAINE [Concomitant]
     Active Substance: LIDOCAINE
     Indication: Product used for unknown indication
     Dosage: UNK
     Dates: start: 20200610, end: 20200610
  736. LIDOCAINE [Concomitant]
     Active Substance: LIDOCAINE
     Dosage: UNK
     Route: 065
     Dates: start: 20200610, end: 20200610
  737. LIDOCAINE [Concomitant]
     Active Substance: LIDOCAINE
     Dosage: UNK
     Route: 065
     Dates: start: 20200610, end: 20200610
  738. LIDOCAINE [Concomitant]
     Active Substance: LIDOCAINE
     Dosage: UNK
     Dates: start: 20200610, end: 20200610
  739. MORPHINE [Concomitant]
     Active Substance: MORPHINE
     Indication: Dyspnoea
     Dosage: UNK
     Dates: start: 20210521, end: 20210616
  740. MORPHINE [Concomitant]
     Active Substance: MORPHINE
     Dosage: UNK
     Dates: start: 20210521, end: 20210616
  741. MORPHINE [Concomitant]
     Active Substance: MORPHINE
     Dosage: UNK
     Route: 065
     Dates: start: 20210521, end: 20210616
  742. MORPHINE [Concomitant]
     Active Substance: MORPHINE
     Dosage: UNK
     Route: 065
     Dates: start: 20210521, end: 20210616
  743. MORPHINE [Concomitant]
     Active Substance: MORPHINE
     Dosage: UNK
     Dates: start: 20210616, end: 20210623
  744. MORPHINE [Concomitant]
     Active Substance: MORPHINE
     Dosage: UNK
     Dates: start: 20210616, end: 20210623
  745. MORPHINE [Concomitant]
     Active Substance: MORPHINE
     Dosage: UNK
     Route: 065
     Dates: start: 20210616, end: 20210623
  746. MORPHINE [Concomitant]
     Active Substance: MORPHINE
     Dosage: UNK
     Route: 065
     Dates: start: 20210616, end: 20210623
  747. ACETAMINOPHEN [Concomitant]
     Active Substance: ACETAMINOPHEN
     Indication: Pseudomonal sepsis
     Dosage: UNK
     Dates: start: 20200610, end: 20200616
  748. ACETAMINOPHEN [Concomitant]
     Active Substance: ACETAMINOPHEN
     Dosage: UNK
     Route: 065
     Dates: start: 20200610, end: 20200616
  749. ACETAMINOPHEN [Concomitant]
     Active Substance: ACETAMINOPHEN
     Dosage: UNK
     Route: 065
     Dates: start: 20200610, end: 20200616
  750. ACETAMINOPHEN [Concomitant]
     Active Substance: ACETAMINOPHEN
     Dosage: UNK
     Dates: start: 20200610, end: 20200616
  751. RETINOL [Concomitant]
     Active Substance: RETINOL
     Dosage: UNK
  752. RETINOL [Concomitant]
     Active Substance: RETINOL
     Dosage: UNK
     Route: 065
  753. RETINOL [Concomitant]
     Active Substance: RETINOL
     Dosage: UNK
     Route: 065
  754. RETINOL [Concomitant]
     Active Substance: RETINOL
     Dosage: UNK
  755. PANTOPRAZOLE SODIUM [Concomitant]
     Active Substance: PANTOPRAZOLE SODIUM
     Indication: Gastrointestinal disorder
     Dosage: 40 MILLIGRAM, QD
     Route: 048
     Dates: start: 20170721, end: 20180327
  756. PANTOPRAZOLE SODIUM [Concomitant]
     Active Substance: PANTOPRAZOLE SODIUM
     Dosage: 40 MILLIGRAM, QD
     Route: 061
     Dates: start: 20170721, end: 20180327
  757. PANTOPRAZOLE SODIUM [Concomitant]
     Active Substance: PANTOPRAZOLE SODIUM
     Dosage: 40 MILLIGRAM, QD
     Route: 061
     Dates: start: 20170721, end: 20180327
  758. PANTOPRAZOLE SODIUM [Concomitant]
     Active Substance: PANTOPRAZOLE SODIUM
     Dosage: 40 MILLIGRAM, QD
     Route: 048
     Dates: start: 20170721, end: 20180327
  759. PANTOPRAZOLE SODIUM [Concomitant]
     Active Substance: PANTOPRAZOLE SODIUM
     Dosage: UNK
     Route: 061
     Dates: start: 20170722, end: 20180327
  760. PANTOPRAZOLE SODIUM [Concomitant]
     Active Substance: PANTOPRAZOLE SODIUM
     Dosage: UNK
     Route: 061
     Dates: start: 20170722, end: 20180327
  761. PANTOPRAZOLE SODIUM [Concomitant]
     Active Substance: PANTOPRAZOLE SODIUM
     Dosage: UNK
     Route: 048
     Dates: start: 20170722, end: 20180327
  762. PANTOPRAZOLE SODIUM [Concomitant]
     Active Substance: PANTOPRAZOLE SODIUM
     Dosage: UNK
     Route: 048
     Dates: start: 20170722, end: 20180327
  763. PANTOPRAZOLE SODIUM [Concomitant]
     Active Substance: PANTOPRAZOLE SODIUM
     Dosage: UNK
     Route: 048
     Dates: start: 20200506, end: 20200519
  764. PANTOPRAZOLE SODIUM [Concomitant]
     Active Substance: PANTOPRAZOLE SODIUM
     Dosage: UNK
     Route: 061
     Dates: start: 20200506, end: 20200519
  765. PANTOPRAZOLE SODIUM [Concomitant]
     Active Substance: PANTOPRAZOLE SODIUM
     Dosage: UNK
     Route: 061
     Dates: start: 20200506, end: 20200519
  766. PANTOPRAZOLE SODIUM [Concomitant]
     Active Substance: PANTOPRAZOLE SODIUM
     Dosage: UNK
     Route: 048
     Dates: start: 20200506, end: 20200519
  767. PANTOPRAZOLE SODIUM [Concomitant]
     Active Substance: PANTOPRAZOLE SODIUM
     Dosage: UNK
     Route: 061
     Dates: start: 20210317, end: 20210607
  768. PANTOPRAZOLE SODIUM [Concomitant]
     Active Substance: PANTOPRAZOLE SODIUM
     Dosage: UNK
     Route: 061
     Dates: start: 20210317, end: 20210607
  769. PANTOPRAZOLE SODIUM [Concomitant]
     Active Substance: PANTOPRAZOLE SODIUM
     Dosage: UNK
     Route: 048
     Dates: start: 20210317, end: 20210607
  770. PANTOPRAZOLE SODIUM [Concomitant]
     Active Substance: PANTOPRAZOLE SODIUM
     Dosage: UNK
     Route: 048
     Dates: start: 20210317, end: 20210607
  771. PANTOPRAZOLE SODIUM [Concomitant]
     Active Substance: PANTOPRAZOLE SODIUM
     Dosage: UNK
     Route: 061
     Dates: start: 20210608, end: 20210610
  772. PANTOPRAZOLE SODIUM [Concomitant]
     Active Substance: PANTOPRAZOLE SODIUM
     Dosage: UNK
     Route: 061
     Dates: start: 20210608, end: 20210610
  773. PANTOPRAZOLE SODIUM [Concomitant]
     Active Substance: PANTOPRAZOLE SODIUM
     Dosage: UNK
     Route: 048
     Dates: start: 20210608, end: 20210610
  774. PANTOPRAZOLE SODIUM [Concomitant]
     Active Substance: PANTOPRAZOLE SODIUM
     Dosage: UNK
     Route: 048
     Dates: start: 20210608, end: 20210610
  775. PANTOPRAZOLE SODIUM [Concomitant]
     Active Substance: PANTOPRAZOLE SODIUM
     Dosage: UNK
     Route: 061
     Dates: start: 20210618, end: 20210623
  776. PANTOPRAZOLE SODIUM [Concomitant]
     Active Substance: PANTOPRAZOLE SODIUM
     Dosage: UNK
     Route: 048
     Dates: start: 20210618, end: 20210623
  777. PANTOPRAZOLE SODIUM [Concomitant]
     Active Substance: PANTOPRAZOLE SODIUM
     Dosage: UNK
     Route: 061
     Dates: start: 20210618, end: 20210623
  778. PANTOPRAZOLE SODIUM [Concomitant]
     Active Substance: PANTOPRAZOLE SODIUM
     Dosage: UNK
     Route: 048
     Dates: start: 20210618, end: 20210623
  779. POTASSIUM CHLORIDE [Concomitant]
     Active Substance: POTASSIUM CHLORIDE
     Indication: Product used for unknown indication
     Dosage: UNK
  780. POTASSIUM CHLORIDE [Concomitant]
     Active Substance: POTASSIUM CHLORIDE
     Dosage: UNK
     Route: 065
  781. POTASSIUM CHLORIDE [Concomitant]
     Active Substance: POTASSIUM CHLORIDE
     Dosage: UNK
     Route: 065
  782. POTASSIUM CHLORIDE [Concomitant]
     Active Substance: POTASSIUM CHLORIDE
     Dosage: UNK
  783. SALINE [Concomitant]
     Active Substance: SODIUM CHLORIDE
     Indication: Product used for unknown indication
     Dosage: UNK
  784. SALINE [Concomitant]
     Active Substance: SODIUM CHLORIDE
     Dosage: UNK
     Route: 065
  785. SALINE [Concomitant]
     Active Substance: SODIUM CHLORIDE
     Dosage: UNK
     Route: 065
  786. SALINE [Concomitant]
     Active Substance: SODIUM CHLORIDE
     Dosage: UNK
  787. TRAZODONE HYDROCHLORIDE [Concomitant]
     Active Substance: TRAZODONE HYDROCHLORIDE
     Indication: Product used for unknown indication
     Dosage: UNK
     Dates: start: 20190731, end: 20190910
  788. TRAZODONE HYDROCHLORIDE [Concomitant]
     Active Substance: TRAZODONE HYDROCHLORIDE
     Dosage: UNK
     Route: 065
     Dates: start: 20190731, end: 20190910
  789. TRAZODONE HYDROCHLORIDE [Concomitant]
     Active Substance: TRAZODONE HYDROCHLORIDE
     Dosage: UNK
     Route: 065
     Dates: start: 20190731, end: 20190910
  790. TRAZODONE HYDROCHLORIDE [Concomitant]
     Active Substance: TRAZODONE HYDROCHLORIDE
     Dosage: UNK
     Dates: start: 20190731, end: 20190910
  791. Xiclav [Concomitant]
     Indication: Product used for unknown indication
     Dosage: 1 GRAM
     Dates: start: 20181218, end: 20181222
  792. Xiclav [Concomitant]
     Dosage: 1 GRAM
     Route: 065
     Dates: start: 20181218, end: 20181222
  793. Xiclav [Concomitant]
     Dosage: 1 GRAM
     Route: 065
     Dates: start: 20181218, end: 20181222
  794. Xiclav [Concomitant]
     Dosage: 1 GRAM
     Dates: start: 20181218, end: 20181222
  795. METOGASTRON [Concomitant]
     Indication: Product used for unknown indication
     Dosage: UNK
  796. METOGASTRON [Concomitant]
     Dosage: UNK
     Route: 065
  797. METOGASTRON [Concomitant]
     Dosage: UNK
     Route: 065
  798. METOGASTRON [Concomitant]
     Dosage: UNK
  799. Motrim [Concomitant]
     Indication: Product used for unknown indication
     Dosage: 200 MILLIGRAM
     Dates: start: 20190619, end: 20190623
  800. Motrim [Concomitant]
     Dosage: 200 MILLIGRAM
     Route: 065
     Dates: start: 20190619, end: 20190623
  801. Motrim [Concomitant]
     Dosage: 200 MILLIGRAM
     Route: 065
     Dates: start: 20190619, end: 20190623
  802. Motrim [Concomitant]
     Dosage: 200 MILLIGRAM
     Dates: start: 20190619, end: 20190623

REACTIONS (26)
  - General physical health deterioration [Fatal]
  - Vascular device infection [Recovered/Resolved]
  - Streptococcal sepsis [Recovered/Resolved]
  - Pseudomonal sepsis [Recovered/Resolved]
  - Sepsis [Recovered/Resolved]
  - Metastases to central nervous system [Not Recovered/Not Resolved]
  - Metastases to lymph nodes [Not Recovered/Not Resolved]
  - Brain oedema [Not Recovered/Not Resolved]
  - Breast cancer metastatic [Recovered/Resolved]
  - Restlessness [Unknown]
  - Candida infection [Recovered/Resolved]
  - C-reactive protein increased [Not Recovered/Not Resolved]
  - Fatigue [Recovered/Resolved]
  - Nausea [Recovered/Resolved]
  - Back pain [Recovered/Resolved]
  - Nasal mucosal disorder [Recovered/Resolved]
  - Varicose vein [Not Recovered/Not Resolved]
  - Eczema [Not Recovered/Not Resolved]
  - Skin fissures [Recovered/Resolved]
  - Pleural effusion [Recovered/Resolved]
  - Paronychia [Recovered/Resolved]
  - Nail bed inflammation [Not Recovered/Not Resolved]
  - Vomiting [Recovered/Resolved]
  - Intentional product misuse [Unknown]
  - Intentional product use issue [Unknown]
  - Off label use [Unknown]

NARRATIVE: CASE EVENT DATE: 20170921
